FAERS Safety Report 25634391 (Version 2)
Quarter: 2025Q3

REPORT INFORMATION
  Report Type: Other
  Country: GB (occurrence: GB)
  Receive Date: 20250801
  Receipt Date: 20250813
  Transmission Date: 20251021
  Serious: Yes (Other)
  Sender: BIOCON
  Company Number: CA-TILLOMEDPR-2023-EPL-007244

PATIENT

DRUGS (1101)
  1. ADALIMUMAB [Suspect]
     Active Substance: ADALIMUMAB
     Indication: Crohn^s disease
     Route: 058
  2. ADALIMUMAB [Suspect]
     Active Substance: ADALIMUMAB
     Indication: Colitis ulcerative
     Route: 065
  3. ADALIMUMAB [Suspect]
     Active Substance: ADALIMUMAB
     Indication: Deep vein thrombosis
     Route: 048
     Dates: start: 201707
  4. ADALIMUMAB [Suspect]
     Active Substance: ADALIMUMAB
     Indication: Product used for unknown indication
     Route: 065
  5. ADALIMUMAB [Suspect]
     Active Substance: ADALIMUMAB
     Route: 065
  6. ADALIMUMAB [Suspect]
     Active Substance: ADALIMUMAB
     Route: 058
  7. ADALIMUMAB [Suspect]
     Active Substance: ADALIMUMAB
     Route: 058
  8. ADALIMUMAB [Suspect]
     Active Substance: ADALIMUMAB
     Route: 048
  9. ADALIMUMAB [Suspect]
     Active Substance: ADALIMUMAB
     Route: 048
  10. ADALIMUMAB [Suspect]
     Active Substance: ADALIMUMAB
     Route: 058
  11. ADALIMUMAB [Suspect]
     Active Substance: ADALIMUMAB
     Route: 058
  12. ADALIMUMAB [Suspect]
     Active Substance: ADALIMUMAB
     Route: 065
  13. ADALIMUMAB [Suspect]
     Active Substance: ADALIMUMAB
     Route: 065
  14. ADALIMUMAB [Suspect]
     Active Substance: ADALIMUMAB
     Route: 065
  15. ADALIMUMAB [Suspect]
     Active Substance: ADALIMUMAB
     Route: 048
  16. ADALIMUMAB [Suspect]
     Active Substance: ADALIMUMAB
     Indication: Crohn^s disease
     Route: 065
     Dates: start: 201707
  17. ADALIMUMAB [Suspect]
     Active Substance: ADALIMUMAB
     Indication: Colitis ulcerative
     Route: 065
  18. ADALIMUMAB [Suspect]
     Active Substance: ADALIMUMAB
     Indication: Deep vein thrombosis
     Route: 058
  19. ADALIMUMAB [Suspect]
     Active Substance: ADALIMUMAB
     Route: 048
     Dates: start: 201707
  20. ADALIMUMAB [Suspect]
     Active Substance: ADALIMUMAB
     Route: 058
  21. METFORMIN [Suspect]
     Active Substance: METFORMIN HYDROCHLORIDE
     Indication: Product used for unknown indication
     Route: 065
  22. METFORMIN [Suspect]
     Active Substance: METFORMIN HYDROCHLORIDE
     Route: 065
  23. METFORMIN [Suspect]
     Active Substance: METFORMIN HYDROCHLORIDE
     Dosage: 2 DOSAGE FORMS, QD
     Route: 065
  24. METFORMIN [Suspect]
     Active Substance: METFORMIN HYDROCHLORIDE
     Indication: Product used for unknown indication
     Route: 065
  25. METFORMIN [Suspect]
     Active Substance: METFORMIN HYDROCHLORIDE
     Route: 065
  26. METFORMIN [Suspect]
     Active Substance: METFORMIN HYDROCHLORIDE
     Route: 065
  27. ESOMEPRAZOLE [Suspect]
     Active Substance: ESOMEPRAZOLE
     Indication: Gastritis
     Route: 065
  28. EPINEPHRINE BITARTRATE [Suspect]
     Active Substance: EPINEPHRINE BITARTRATE
     Indication: Product used for unknown indication
     Route: 065
  29. ESOMEPRAZOLE [Suspect]
     Active Substance: ESOMEPRAZOLE
     Indication: Gastritis
     Route: 065
  30. FELODIPINE [Suspect]
     Active Substance: FELODIPINE
     Indication: Hypertension
     Route: 048
  31. FELODIPINE [Suspect]
     Active Substance: FELODIPINE
     Indication: Product used for unknown indication
     Route: 048
  32. FELODIPINE [Suspect]
     Active Substance: FELODIPINE
     Route: 048
  33. FELODIPINE [Suspect]
     Active Substance: FELODIPINE
     Dosage: 2 DOSAGE FORM, QD TABLET (EXTENDED- RELEASE)
     Route: 048
  34. FELODIPINE [Suspect]
     Active Substance: FELODIPINE
     Dosage: 5 MILLIGRAM, QD (TABLET (EXTENDED- RELEASE)
     Route: 048
  35. FELODIPINE [Suspect]
     Active Substance: FELODIPINE
     Indication: Hypertension
     Dosage: 5 MILLIGRAM, QD, 5 MILLIGRAM, DAILY (2.5 MILLIGRAM, 2 DOSE PER 1 D)
     Route: 048
  36. FELODIPINE [Suspect]
     Active Substance: FELODIPINE
     Dosage: 3 MILLIGRAM, QD
     Route: 048
  37. GABAPENTIN [Suspect]
     Active Substance: GABAPENTIN
     Indication: Product used for unknown indication
     Route: 065
  38. GABAPENTIN [Suspect]
     Active Substance: GABAPENTIN
     Route: 065
  39. GABAPENTIN [Suspect]
     Active Substance: GABAPENTIN
     Indication: Product used for unknown indication
     Dosage: 900 MILLIGRAM, QD, (300 MILLIGRAM, 3 DOSE PER 1 D )
     Route: 065
  40. GABAPENTIN [Suspect]
     Active Substance: GABAPENTIN
     Route: 065
  41. GABAPENTIN [Suspect]
     Active Substance: GABAPENTIN
     Route: 065
  42. GABAPENTIN [Suspect]
     Active Substance: GABAPENTIN
     Dosage: 3 DOSAGE FORM, QD
     Route: 065
  43. ALBENDAZOLE [Suspect]
     Active Substance: ALBENDAZOLE
     Indication: Deep vein thrombosis
     Route: 042
     Dates: start: 2021
  44. ALBENDAZOLE [Suspect]
     Active Substance: ALBENDAZOLE
     Indication: Colitis ulcerative
     Route: 042
     Dates: start: 2017, end: 2017
  45. ALBENDAZOLE [Suspect]
     Active Substance: ALBENDAZOLE
     Route: 048
  46. ALBENDAZOLE [Suspect]
     Active Substance: ALBENDAZOLE
     Indication: Deep vein thrombosis
     Route: 042
     Dates: start: 2021
  47. ALBENDAZOLE [Suspect]
     Active Substance: ALBENDAZOLE
     Indication: Colitis ulcerative
     Route: 042
     Dates: start: 2017, end: 2017
  48. ALBENDAZOLE [Suspect]
     Active Substance: ALBENDAZOLE
     Indication: Crohn^s disease
     Route: 048
  49. ALBENDAZOLE [Suspect]
     Active Substance: ALBENDAZOLE
     Route: 065
  50. ALBENDAZOLE [Suspect]
     Active Substance: ALBENDAZOLE
     Route: 065
  51. ALBENDAZOLE [Suspect]
     Active Substance: ALBENDAZOLE
     Route: 042
  52. ALBENDAZOLE [Suspect]
     Active Substance: ALBENDAZOLE
     Route: 042
  53. ALBENDAZOLE [Suspect]
     Active Substance: ALBENDAZOLE
     Route: 042
  54. ALBENDAZOLE [Suspect]
     Active Substance: ALBENDAZOLE
     Route: 048
  55. ALBENDAZOLE [Suspect]
     Active Substance: ALBENDAZOLE
     Route: 048
  56. ACETAMINOPHEN [Suspect]
     Active Substance: ACETAMINOPHEN
     Indication: Product used for unknown indication
     Route: 065
  57. ACETAMINOPHEN [Suspect]
     Active Substance: ACETAMINOPHEN
     Dosage: 4 DOSAGE FORMS, QD
     Route: 065
  58. ASACOL [Suspect]
     Active Substance: MESALAMINE
     Indication: Colitis ulcerative
     Route: 065
  59. ASACOL [Suspect]
     Active Substance: MESALAMINE
     Dosage: 12 DOSAGE FORM, QD
     Route: 065
  60. ASACOL [Suspect]
     Active Substance: MESALAMINE
     Dosage: 2.4 GRAM, QD
     Route: 065
     Dates: start: 20161001
  61. ASACOL [Suspect]
     Active Substance: MESALAMINE
     Dosage: 3 GRAM, QD
     Route: 065
     Dates: start: 20161001
  62. ASACOL [Suspect]
     Active Substance: MESALAMINE
     Dosage: 4.8 GRAM, QD
     Route: 065
     Dates: start: 20161001
  63. ASACOL [Suspect]
     Active Substance: MESALAMINE
     Dosage: 4.8 GRAM, QD
     Route: 065
  64. ASACOL [Suspect]
     Active Substance: MESALAMINE
     Route: 065
  65. ASACOL [Suspect]
     Active Substance: MESALAMINE
     Route: 065
  66. ASACOL [Suspect]
     Active Substance: MESALAMINE
     Route: 065
  67. ASACOL [Suspect]
     Active Substance: MESALAMINE
     Route: 065
  68. ASACOL [Suspect]
     Active Substance: MESALAMINE
     Dosage: 6 DOSAGE FORM, QD
     Route: 065
     Dates: start: 20161001
  69. ASACOL [Suspect]
     Active Substance: MESALAMINE
     Dosage: 1 DOSAGE FORM, QD
     Route: 065
  70. ASACOL [Suspect]
     Active Substance: MESALAMINE
     Route: 065
  71. ASACOL [Suspect]
     Active Substance: MESALAMINE
     Route: 065
     Dates: start: 20161001
  72. ASACOL [Suspect]
     Active Substance: MESALAMINE
     Dosage: 1 DOSAGE FORM, QD
     Route: 048
  73. ASACOL [Suspect]
     Active Substance: MESALAMINE
     Dosage: 40 MILLIGRAM, QD
     Route: 065
  74. ASACOL [Suspect]
     Active Substance: MESALAMINE
     Dosage: 50 MILLIGRAM, QD
     Route: 048
  75. ASACOL [Suspect]
     Active Substance: MESALAMINE
     Dosage: 6 DOSAGE FORM, QD
     Route: 048
  76. ASACOL [Suspect]
     Active Substance: MESALAMINE
     Dosage: 6 DOSAGE FORM, 2 DOSE PER 1 D
     Route: 065
  77. ASACOL [Suspect]
     Active Substance: MESALAMINE
     Route: 065
     Dates: start: 20161001
  78. ASACOL [Suspect]
     Active Substance: MESALAMINE
     Route: 065
  79. ASACOL [Suspect]
     Active Substance: MESALAMINE
     Route: 065
  80. ASACOL [Suspect]
     Active Substance: MESALAMINE
     Route: 065
  81. ASACOL [Suspect]
     Active Substance: MESALAMINE
     Dosage: 4.8 DOSAGE FORM, QD
     Route: 065
  82. ASACOL [Suspect]
     Active Substance: MESALAMINE
     Dosage: 4.8 DOSAGE FORM, QD
     Route: 065
  83. ASACOL [Suspect]
     Active Substance: MESALAMINE
     Route: 065
  84. ASACOL [Suspect]
     Active Substance: MESALAMINE
     Dosage: 3 DOSAGE FORM, QD
     Route: 065
  85. ASACOL [Suspect]
     Active Substance: MESALAMINE
     Route: 065
  86. ASACOL [Suspect]
     Active Substance: MESALAMINE
     Route: 065
  87. ASACOL [Suspect]
     Active Substance: MESALAMINE
     Dosage: 2.4 MILLIGRAM, QD
     Route: 065
  88. ASACOL [Suspect]
     Active Substance: MESALAMINE
     Route: 065
  89. ASACOL [Suspect]
     Active Substance: MESALAMINE
     Route: 065
  90. ASACOL [Suspect]
     Active Substance: MESALAMINE
     Route: 065
  91. ASACOL [Suspect]
     Active Substance: MESALAMINE
     Route: 065
  92. ASACOL [Suspect]
     Active Substance: MESALAMINE
     Route: 065
  93. ASACOL [Suspect]
     Active Substance: MESALAMINE
     Dosage: 1 DOSAGE FORM, QD
     Route: 065
  94. ASACOL [Suspect]
     Active Substance: MESALAMINE
     Dosage: 1 DOSAGE FORM, QD
     Route: 048
  95. ASACOL [Suspect]
     Active Substance: MESALAMINE
     Dosage: 1 DOSAGE FORM, QD
     Route: 065
  96. ASACOL [Suspect]
     Active Substance: MESALAMINE
     Dosage: 2.4 MILLIGRAM, QD
     Route: 065
  97. ASACOL [Suspect]
     Active Substance: MESALAMINE
     Route: 065
  98. ASACOL [Suspect]
     Active Substance: MESALAMINE
     Dosage: 3 DOSAGE FORM, QD
     Route: 065
  99. ASACOL [Suspect]
     Active Substance: MESALAMINE
     Route: 065
  100. ASACOL [Suspect]
     Active Substance: MESALAMINE
     Route: 065
  101. ASACOL [Suspect]
     Active Substance: MESALAMINE
     Route: 065
  102. ASACOL [Suspect]
     Active Substance: MESALAMINE
     Route: 065
  103. ASACOL [Suspect]
     Active Substance: MESALAMINE
     Route: 065
  104. ASACOL [Suspect]
     Active Substance: MESALAMINE
     Route: 065
  105. ASACOL [Suspect]
     Active Substance: MESALAMINE
     Route: 065
  106. ASACOL [Suspect]
     Active Substance: MESALAMINE
     Route: 065
  107. ASACOL [Suspect]
     Active Substance: MESALAMINE
     Route: 065
  108. ASACOL [Suspect]
     Active Substance: MESALAMINE
     Indication: Colitis ulcerative
     Dosage: 4.8 GRAM, 1 EVERY 1 DAY
     Route: 065
  109. ASACOL [Suspect]
     Active Substance: MESALAMINE
     Indication: Product used for unknown indication
     Dosage: 1 DOSAGE FORMS, 1 EVERY 1 DAY
     Route: 065
  110. ASACOL [Suspect]
     Active Substance: MESALAMINE
     Dosage: 6 DOSAGE FORMS, 1 EVERY 1 DAY
     Route: 065
  111. ASACOL [Suspect]
     Active Substance: MESALAMINE
     Route: 065
  112. ASACOL [Suspect]
     Active Substance: MESALAMINE
     Dosage: 2.4 GRAM, 1 EVERY 1 DAY
     Route: 065
  113. ASACOL [Suspect]
     Active Substance: MESALAMINE
     Dosage: 12 DOSAGE FORMS, 1 EVERY 1 DAY
     Route: 065
  114. ASACOL [Suspect]
     Active Substance: MESALAMINE
     Dosage: 3 GRAM, 1 EVERY 1 DAY
     Route: 065
  115. ASACOL [Suspect]
     Active Substance: MESALAMINE
     Dosage: 6 DOSAGE FORM, QD, 3 DOSAGE FORM, Q12H
     Route: 065
     Dates: start: 20161001
  116. ASACOL [Suspect]
     Active Substance: MESALAMINE
     Dosage: 6 DOSAGE FORM, QD, 3 DOSAGE FORM, Q12H
     Route: 065
  117. ASACOL [Suspect]
     Active Substance: MESALAMINE
     Dosage: 3 GRAM, QD
     Route: 065
     Dates: start: 20161001
  118. ASACOL [Suspect]
     Active Substance: MESALAMINE
     Dosage: 12 DOSAGE FORM, QD, 6.0 DOSAGE FORM, 2 EVERY 1 DAYS
     Route: 065
     Dates: start: 20161001
  119. ASACOL [Suspect]
     Active Substance: MESALAMINE
     Dosage: 4.8 DOSAGE FORM, QD
     Route: 065
     Dates: start: 20161001
  120. ASACOL [Suspect]
     Active Substance: MESALAMINE
     Dosage: 6 GRAM, QD, 3 GRAM, 2 EVERY 1 DAYS
     Route: 065
  121. ASACOL [Suspect]
     Active Substance: MESALAMINE
     Dosage: 2.4 GRAM, 1 EVERY 1 DAY
     Route: 065
     Dates: start: 20161001
  122. ASACOL [Suspect]
     Active Substance: MESALAMINE
     Dosage: 1 DOSAGE FORMS, 1 EVERY 1 DAY
     Route: 048
  123. BUDESONIDE [Suspect]
     Active Substance: BUDESONIDE
     Indication: Colitis ulcerative
     Route: 065
  124. BUDESONIDE [Suspect]
     Active Substance: BUDESONIDE
     Route: 048
  125. BUDESONIDE [Suspect]
     Active Substance: BUDESONIDE
     Route: 065
  126. BUDESONIDE [Suspect]
     Active Substance: BUDESONIDE
     Dosage: 8 DOSAGE FORM, QD
     Route: 048
  127. BUDESONIDE [Suspect]
     Active Substance: BUDESONIDE
     Route: 048
     Dates: start: 201707
  128. BUDESONIDE [Suspect]
     Active Substance: BUDESONIDE
     Route: 065
  129. BUDESONIDE [Suspect]
     Active Substance: BUDESONIDE
     Dosage: 1 DOSAGE FORM, QD
     Route: 048
     Dates: start: 201707
  130. BUDESONIDE [Suspect]
     Active Substance: BUDESONIDE
     Dosage: UNK, QD
     Route: 048
  131. BUDESONIDE [Suspect]
     Active Substance: BUDESONIDE
     Route: 048
     Dates: start: 201707
  132. BUDESONIDE [Suspect]
     Active Substance: BUDESONIDE
     Route: 048
  133. BUDESONIDE [Suspect]
     Active Substance: BUDESONIDE
     Dosage: 245 DOSAGE FORM, QD
     Route: 048
  134. BUDESONIDE [Suspect]
     Active Substance: BUDESONIDE
     Route: 048
  135. AZD-1222 [Suspect]
     Active Substance: AZD-1222
     Indication: COVID-19 immunisation
     Route: 065
     Dates: start: 20190319
  136. AZD-1222 [Suspect]
     Active Substance: AZD-1222
     Indication: Adverse drug reaction
     Route: 065
  137. AZD-1222 [Suspect]
     Active Substance: AZD-1222
     Indication: Product used for unknown indication
     Route: 065
     Dates: start: 2019, end: 2019
  138. AZD-1222 [Suspect]
     Active Substance: AZD-1222
     Route: 065
     Dates: start: 20210713, end: 20210713
  139. AZD-1222 [Suspect]
     Active Substance: AZD-1222
     Route: 065
     Dates: start: 20210130, end: 20210130
  140. AZD-1222 [Suspect]
     Active Substance: AZD-1222
     Route: 065
     Dates: start: 20210508, end: 20210508
  141. AZD-1222 [Suspect]
     Active Substance: AZD-1222
     Route: 065
     Dates: start: 20210204, end: 20210204
  142. AZD-1222 [Suspect]
     Active Substance: AZD-1222
     Route: 065
     Dates: start: 20210521, end: 20210521
  143. AZD-1222 [Suspect]
     Active Substance: AZD-1222
     Route: 065
     Dates: start: 20210318, end: 20210318
  144. AZD-1222 [Suspect]
     Active Substance: AZD-1222
     Route: 065
     Dates: start: 20210416, end: 20210416
  145. AZD-1222 [Suspect]
     Active Substance: AZD-1222
     Route: 065
     Dates: start: 20210215, end: 20210215
  146. AZD-1222 [Suspect]
     Active Substance: AZD-1222
     Route: 065
     Dates: start: 20210319, end: 20210319
  147. AZD-1222 [Suspect]
     Active Substance: AZD-1222
     Route: 065
     Dates: start: 20210204, end: 20210204
  148. AZD-1222 [Suspect]
     Active Substance: AZD-1222
     Route: 065
     Dates: start: 20210423, end: 20210423
  149. AZD-1222 [Suspect]
     Active Substance: AZD-1222
     Route: 065
  150. AZD-1222 [Suspect]
     Active Substance: AZD-1222
     Route: 065
  151. AZD-1222 [Suspect]
     Active Substance: AZD-1222
     Indication: COVID-19 immunisation
     Route: 065
  152. AZD-1222 [Suspect]
     Active Substance: AZD-1222
     Indication: Product used for unknown indication
     Route: 065
  153. AZD-1222 [Suspect]
     Active Substance: AZD-1222
     Indication: Adverse drug reaction
     Route: 065
  154. AZD-1222 [Suspect]
     Active Substance: AZD-1222
     Route: 065
  155. AZD-1222 [Suspect]
     Active Substance: AZD-1222
     Route: 065
  156. AZD-1222 [Suspect]
     Active Substance: AZD-1222
     Route: 065
  157. AZD-1222 [Suspect]
     Active Substance: AZD-1222
     Route: 065
  158. AZD-1222 [Suspect]
     Active Substance: AZD-1222
     Route: 065
  159. AZD-1222 [Suspect]
     Active Substance: AZD-1222
     Route: 065
  160. AZD-1222 [Suspect]
     Active Substance: AZD-1222
     Route: 065
  161. AZD-1222 [Suspect]
     Active Substance: AZD-1222
     Route: 065
  162. AZD-1222 [Suspect]
     Active Substance: AZD-1222
     Route: 065
  163. AZD-1222 [Suspect]
     Active Substance: AZD-1222
     Route: 065
  164. AZD-1222 [Suspect]
     Active Substance: AZD-1222
     Route: 065
  165. CORTIFOAM [Suspect]
     Active Substance: HYDROCORTISONE ACETATE
     Indication: Deep vein thrombosis
     Route: 048
  166. CORTIFOAM [Suspect]
     Active Substance: HYDROCORTISONE ACETATE
     Indication: Colitis ulcerative
     Route: 065
  167. CORTIFOAM [Suspect]
     Active Substance: HYDROCORTISONE ACETATE
     Dosage: 1 DOSAGE FORM, QD
     Route: 048
     Dates: start: 201707
  168. CORTIFOAM [Suspect]
     Active Substance: HYDROCORTISONE ACETATE
     Dosage: 1 DOSAGE FORM, QD
     Route: 065
  169. CORTIFOAM [Suspect]
     Active Substance: HYDROCORTISONE ACETATE
     Route: 048
     Dates: start: 201707
  170. CORTIFOAM [Suspect]
     Active Substance: HYDROCORTISONE ACETATE
     Route: 065
  171. CORTIFOAM [Suspect]
     Active Substance: HYDROCORTISONE ACETATE
     Dosage: UNK, QD
     Route: 065
  172. CORTIFOAM [Suspect]
     Active Substance: HYDROCORTISONE ACETATE
     Route: 048
  173. CORTIFOAM [Suspect]
     Active Substance: HYDROCORTISONE ACETATE
     Route: 065
  174. CORTIFOAM [Suspect]
     Active Substance: HYDROCORTISONE ACETATE
     Route: 065
  175. CORTIFOAM [Suspect]
     Active Substance: HYDROCORTISONE ACETATE
     Route: 065
  176. CORTIFOAM [Suspect]
     Active Substance: HYDROCORTISONE ACETATE
     Route: 065
  177. CORTIFOAM [Suspect]
     Active Substance: HYDROCORTISONE ACETATE
     Route: 065
  178. CORTIFOAM [Suspect]
     Active Substance: HYDROCORTISONE ACETATE
     Route: 065
  179. CORTIFOAM [Suspect]
     Active Substance: HYDROCORTISONE ACETATE
     Route: 065
  180. CORTIFOAM [Suspect]
     Active Substance: HYDROCORTISONE ACETATE
     Route: 065
  181. CORTIFOAM [Suspect]
     Active Substance: HYDROCORTISONE ACETATE
     Route: 065
  182. CORTIFOAM [Suspect]
     Active Substance: HYDROCORTISONE ACETATE
     Route: 065
  183. CORTIFOAM [Suspect]
     Active Substance: HYDROCORTISONE ACETATE
     Route: 065
  184. CORTIFOAM [Suspect]
     Active Substance: HYDROCORTISONE ACETATE
     Route: 065
  185. CORTIFOAM [Suspect]
     Active Substance: HYDROCORTISONE ACETATE
     Indication: Colitis ulcerative
     Dosage: 4 DOSAGE FORM1 EVERY 1 DAYS
     Route: 065
  186. CORTIFOAM [Suspect]
     Active Substance: HYDROCORTISONE ACETATE
     Indication: Deep vein thrombosis
     Dosage: 1 DOSAGE FORM1 EVERY 1 DAYS
     Route: 065
  187. CORTIFOAM [Suspect]
     Active Substance: HYDROCORTISONE ACETATE
     Route: 065
  188. CORTIFOAM [Suspect]
     Active Substance: HYDROCORTISONE ACETATE
     Dosage: 1 DOSAGE FORM1 EVERY 1 DAYS
     Route: 048
  189. CORTIFOAM [Suspect]
     Active Substance: HYDROCORTISONE ACETATE
     Route: 048
  190. CORTIFOAM [Suspect]
     Active Substance: HYDROCORTISONE ACETATE
     Route: 048
  191. CORTIFOAM [Suspect]
     Active Substance: HYDROCORTISONE ACETATE
     Dosage: 1 DOSAGE FORM1 EVERY 1 DAYS
     Route: 065
  192. CORTIFOAM [Suspect]
     Active Substance: HYDROCORTISONE ACETATE
     Route: 048
  193. CORTIFOAM [Suspect]
     Active Substance: HYDROCORTISONE ACETATE
     Dosage: 32 DOSAGE FORM, QD,8 DOSAGE FORM, Q8WK
     Route: 048
     Dates: start: 201707
  194. BUDESONIDE [Suspect]
     Active Substance: BUDESONIDE
     Indication: Colitis ulcerative
     Route: 048
  195. BUDESONIDE [Suspect]
     Active Substance: BUDESONIDE
     Indication: Product used for unknown indication
     Route: 065
  196. BUDESONIDE [Suspect]
     Active Substance: BUDESONIDE
     Dosage: 1 DOSAGE FORM, QD
     Route: 048
  197. BUDESONIDE [Suspect]
     Active Substance: BUDESONIDE
     Dosage: 1 DOSAGE FORM, QD
     Route: 065
  198. BUDESONIDE [Suspect]
     Active Substance: BUDESONIDE
     Dosage: 1 DOSAGE FORM, QD
     Route: 065
  199. BUDESONIDE [Suspect]
     Active Substance: BUDESONIDE
     Route: 048
     Dates: start: 201707
  200. BUDESONIDE [Suspect]
     Active Substance: BUDESONIDE
     Route: 065
  201. BUDESONIDE [Suspect]
     Active Substance: BUDESONIDE
     Route: 048
  202. BUDESONIDE [Suspect]
     Active Substance: BUDESONIDE
     Route: 065
  203. BUDESONIDE [Suspect]
     Active Substance: BUDESONIDE
     Route: 048
  204. BUDESONIDE [Suspect]
     Active Substance: BUDESONIDE
     Dosage: 8 DOSAGE FORM, QD
     Route: 048
  205. BUDESONIDE [Suspect]
     Active Substance: BUDESONIDE
     Route: 048
  206. BUDESONIDE [Suspect]
     Active Substance: BUDESONIDE
     Route: 048
  207. BUDESONIDE [Suspect]
     Active Substance: BUDESONIDE
     Route: 048
  208. BUDESONIDE [Suspect]
     Active Substance: BUDESONIDE
     Route: 048
  209. BUDESONIDE [Suspect]
     Active Substance: BUDESONIDE
     Route: 048
  210. BUDESONIDE [Suspect]
     Active Substance: BUDESONIDE
     Route: 048
  211. BUDESONIDE [Suspect]
     Active Substance: BUDESONIDE
     Route: 048
  212. BUDESONIDE [Suspect]
     Active Substance: BUDESONIDE
     Route: 048
  213. BUDESONIDE [Suspect]
     Active Substance: BUDESONIDE
     Route: 048
  214. BUDESONIDE [Suspect]
     Active Substance: BUDESONIDE
     Route: 048
  215. BUDESONIDE [Suspect]
     Active Substance: BUDESONIDE
     Route: 048
  216. BUDESONIDE [Suspect]
     Active Substance: BUDESONIDE
     Route: 048
  217. BUDESONIDE [Suspect]
     Active Substance: BUDESONIDE
     Route: 048
  218. BUDESONIDE [Suspect]
     Active Substance: BUDESONIDE
     Route: 048
  219. BUDESONIDE [Suspect]
     Active Substance: BUDESONIDE
     Route: 048
  220. BUDESONIDE [Suspect]
     Active Substance: BUDESONIDE
     Route: 048
  221. BUDESONIDE [Suspect]
     Active Substance: BUDESONIDE
     Route: 048
  222. BUDESONIDE [Suspect]
     Active Substance: BUDESONIDE
     Route: 048
  223. BUDESONIDE [Suspect]
     Active Substance: BUDESONIDE
     Route: 048
  224. BUDESONIDE [Suspect]
     Active Substance: BUDESONIDE
     Route: 048
  225. BUDESONIDE [Suspect]
     Active Substance: BUDESONIDE
     Route: 048
  226. BUDESONIDE [Suspect]
     Active Substance: BUDESONIDE
     Route: 048
  227. BUDESONIDE [Suspect]
     Active Substance: BUDESONIDE
     Route: 048
  228. BUDESONIDE [Suspect]
     Active Substance: BUDESONIDE
     Route: 048
  229. BUDESONIDE [Suspect]
     Active Substance: BUDESONIDE
     Route: 048
  230. BUDESONIDE [Suspect]
     Active Substance: BUDESONIDE
     Route: 048
  231. BUDESONIDE [Suspect]
     Active Substance: BUDESONIDE
     Route: 048
  232. HYDROCORTISONE ACETATE [Suspect]
     Active Substance: HYDROCORTISONE ACETATE
     Indication: Product used for unknown indication
     Route: 048
     Dates: start: 200707
  233. HYDROCORTISONE ACETATE [Suspect]
     Active Substance: HYDROCORTISONE ACETATE
     Indication: Colitis ulcerative
  234. MEBEVERINE EMBONATE [Suspect]
     Active Substance: MEBEVERINE EMBONATE
     Indication: Product used for unknown indication
     Route: 065
  235. CORTISONE [Suspect]
     Active Substance: CORTISONE
     Indication: Crohn^s disease
     Route: 042
  236. CORTISONE [Suspect]
     Active Substance: CORTISONE
     Indication: Colitis ulcerative
     Dosage: UNK UNK, QD
     Route: 065
  237. CORTISONE [Suspect]
     Active Substance: CORTISONE
     Route: 065
  238. CORTISONE [Suspect]
     Active Substance: CORTISONE
     Dosage: 1 DOSAGE FORM, QD
     Route: 048
  239. CORTISONE [Suspect]
     Active Substance: CORTISONE
     Dosage: 8 DOSAGE FORM, QD
     Route: 048
  240. CORTISONE [Suspect]
     Active Substance: CORTISONE
     Route: 065
  241. CORTISONE [Suspect]
     Active Substance: CORTISONE
     Route: 048
  242. CORTISONE [Suspect]
     Active Substance: CORTISONE
     Route: 048
  243. CORTISONE [Suspect]
     Active Substance: CORTISONE
     Route: 048
  244. CORTISONE [Suspect]
     Active Substance: CORTISONE
     Dosage: 8 MILLIGRAM, QWEEK
     Route: 048
  245. CORTISONE [Suspect]
     Active Substance: CORTISONE
     Dosage: 6 MILLIGRAM, QWEEK
     Route: 048
  246. CORTISONE [Suspect]
     Active Substance: CORTISONE
     Route: 065
  247. PEDIAPRED [Suspect]
     Active Substance: PREDNISOLONE SODIUM PHOSPHATE
     Indication: Product used for unknown indication
     Route: 065
  248. PEDIAPRED [Suspect]
     Active Substance: PREDNISOLONE SODIUM PHOSPHATE
     Route: 065
  249. PEDIAPRED [Suspect]
     Active Substance: PREDNISOLONE SODIUM PHOSPHATE
     Route: 065
  250. PEDIAPRED [Suspect]
     Active Substance: PREDNISOLONE SODIUM PHOSPHATE
     Dosage: 50 MG, QD
     Route: 065
  251. PEDIAPRED [Suspect]
     Active Substance: PREDNISOLONE SODIUM PHOSPHATE
     Route: 065
  252. PEDIAPRED [Suspect]
     Active Substance: PREDNISOLONE SODIUM PHOSPHATE
     Dosage: 40 MG, QD
     Route: 065
  253. DAPAGLIFLOZIN [Suspect]
     Active Substance: DAPAGLIFLOZIN
     Indication: Ill-defined disorder
     Route: 065
  254. DAPAGLIFLOZIN [Suspect]
     Active Substance: DAPAGLIFLOZIN
     Indication: Cardiac failure chronic
     Route: 065
  255. DAPAGLIFLOZIN [Suspect]
     Active Substance: DAPAGLIFLOZIN
     Indication: Product used for unknown indication
     Route: 065
  256. DAPAGLIFLOZIN [Suspect]
     Active Substance: DAPAGLIFLOZIN
     Route: 065
  257. ENTYVIO [Suspect]
     Active Substance: VEDOLIZUMAB
     Indication: Colitis ulcerative
     Route: 042
  258. ENTYVIO [Suspect]
     Active Substance: VEDOLIZUMAB
     Indication: Deep vein thrombosis
     Route: 048
  259. ENTYVIO [Suspect]
     Active Substance: VEDOLIZUMAB
     Route: 065
  260. ENTYVIO [Suspect]
     Active Substance: VEDOLIZUMAB
     Dosage: 1 DOSAGE FORM, QD
     Route: 048
  261. ENTYVIO [Suspect]
     Active Substance: VEDOLIZUMAB
     Route: 048
  262. ENTYVIO [Suspect]
     Active Substance: VEDOLIZUMAB
     Route: 065
  263. ENTYVIO [Suspect]
     Active Substance: VEDOLIZUMAB
     Dosage: UNK UNK, QD
     Route: 065
  264. ENTYVIO [Suspect]
     Active Substance: VEDOLIZUMAB
     Route: 065
  265. ENTYVIO [Suspect]
     Active Substance: VEDOLIZUMAB
     Route: 042
  266. ENTYVIO [Suspect]
     Active Substance: VEDOLIZUMAB
     Route: 048
     Dates: start: 2017, end: 2017
  267. ENTYVIO [Suspect]
     Active Substance: VEDOLIZUMAB
     Route: 042
  268. MESALAMINE [Suspect]
     Active Substance: MESALAMINE
     Indication: Colitis ulcerative
     Route: 048
  269. ENTYVIO [Suspect]
     Active Substance: VEDOLIZUMAB
     Indication: Colitis ulcerative
     Dosage: UNK 1 EVERY 1 DAYS
     Route: 048
  270. ENTYVIO [Suspect]
     Active Substance: VEDOLIZUMAB
     Indication: Deep vein thrombosis
     Route: 065
  271. ENTYVIO [Suspect]
     Active Substance: VEDOLIZUMAB
     Indication: Product used for unknown indication
     Route: 065
  272. ENTYVIO [Suspect]
     Active Substance: VEDOLIZUMAB
     Dosage: 1 DOSAGE FORMS, QD ENTYVIO FOR I.V. INFUSION
     Route: 065
  273. ENTYVIO [Suspect]
     Active Substance: VEDOLIZUMAB
     Dosage: 1 DOSAGE FORMS
     Route: 048
  274. ENTYVIO [Suspect]
     Active Substance: VEDOLIZUMAB
     Route: 042
  275. ENTYVIO [Suspect]
     Active Substance: VEDOLIZUMAB
     Route: 065
  276. ENTYVIO [Suspect]
     Active Substance: VEDOLIZUMAB
     Route: 065
  277. ENTYVIO [Suspect]
     Active Substance: VEDOLIZUMAB
     Route: 065
  278. ENTYVIO [Suspect]
     Active Substance: VEDOLIZUMAB
     Route: 048
  279. ENTYVIO [Suspect]
     Active Substance: VEDOLIZUMAB
     Dosage: UNK, QD
     Route: 065
  280. ENTYVIO [Suspect]
     Active Substance: VEDOLIZUMAB
     Route: 048
  281. ENTYVIO [Suspect]
     Active Substance: VEDOLIZUMAB
     Route: 042
     Dates: start: 2017, end: 2017
  282. ENTYVIO [Suspect]
     Active Substance: VEDOLIZUMAB
     Route: 065
  283. ENTYVIO [Suspect]
     Active Substance: VEDOLIZUMAB
     Route: 065
  284. ENTYVIO [Suspect]
     Active Substance: VEDOLIZUMAB
     Route: 065
  285. ENTYVIO [Suspect]
     Active Substance: VEDOLIZUMAB
     Route: 048
  286. ENTYVIO [Suspect]
     Active Substance: VEDOLIZUMAB
     Route: 042
  287. ENTYVIO [Suspect]
     Active Substance: VEDOLIZUMAB
     Route: 048
  288. ENTYVIO [Suspect]
     Active Substance: VEDOLIZUMAB
     Route: 065
  289. ENTYVIO [Suspect]
     Active Substance: VEDOLIZUMAB
     Route: 042
  290. ENTYVIO [Suspect]
     Active Substance: VEDOLIZUMAB
     Route: 042
  291. ENTYVIO [Suspect]
     Active Substance: VEDOLIZUMAB
     Route: 042
  292. ENTYVIO [Suspect]
     Active Substance: VEDOLIZUMAB
     Route: 042
  293. ENTYVIO [Suspect]
     Active Substance: VEDOLIZUMAB
     Route: 042
  294. ENTYVIO [Suspect]
     Active Substance: VEDOLIZUMAB
     Route: 042
  295. ENTYVIO [Suspect]
     Active Substance: VEDOLIZUMAB
     Route: 042
  296. ENTYVIO [Suspect]
     Active Substance: VEDOLIZUMAB
     Route: 042
  297. ENTYVIO [Suspect]
     Active Substance: VEDOLIZUMAB
     Route: 042
  298. ENTYVIO [Suspect]
     Active Substance: VEDOLIZUMAB
     Dosage: 1 DOSAGE FORM, QD
     Route: 048
  299. ENTYVIO [Suspect]
     Active Substance: VEDOLIZUMAB
     Dosage: 1 DOSAGE FORM, QD
     Route: 048
  300. ENTYVIO [Suspect]
     Active Substance: VEDOLIZUMAB
     Dosage: 1 DOSAGE FORM, QD
     Route: 048
  301. ENTYVIO [Suspect]
     Active Substance: VEDOLIZUMAB
     Dosage: 1 DOSAGE FORM, QD
     Route: 048
  302. ENTYVIO [Suspect]
     Active Substance: VEDOLIZUMAB
     Route: 048
  303. ENTYVIO [Suspect]
     Active Substance: VEDOLIZUMAB
     Indication: Colitis ulcerative
     Route: 048
  304. ENTYVIO [Suspect]
     Active Substance: VEDOLIZUMAB
     Route: 042
  305. EPINEPHRINE HYDROCHLORIDE [Suspect]
     Active Substance: EPINEPHRINE HYDROCHLORIDE
     Indication: Product used for unknown indication
     Route: 065
  306. HYDROCORTISONE [Suspect]
     Active Substance: HYDROCORTISONE
     Indication: Colitis ulcerative
     Route: 048
  307. HYDROCORTISONE [Suspect]
     Active Substance: HYDROCORTISONE
     Route: 065
  308. HYDROCORTISONE [Suspect]
     Active Substance: HYDROCORTISONE
     Dosage: 1 DOSAGE FORM, QD
     Route: 048
     Dates: start: 201807
  309. HYDROCORTISONE [Suspect]
     Active Substance: HYDROCORTISONE
     Route: 065
  310. HYDROCORTISONE [Suspect]
     Active Substance: HYDROCORTISONE
     Route: 065
  311. HYDROCORTISONE [Suspect]
     Active Substance: HYDROCORTISONE
     Route: 048
     Dates: start: 201807
  312. HYDROCORTISONE [Suspect]
     Active Substance: HYDROCORTISONE
     Route: 065
  313. HYDROCORTISONE [Suspect]
     Active Substance: HYDROCORTISONE
     Dosage: 8 DOSAGE FORM, QD
     Route: 048
  314. HYDROCORTISONE [Suspect]
     Active Substance: HYDROCORTISONE
     Dosage: 6 DOSAGE FORM, QD
     Route: 048
  315. HYDROCORTISONE [Suspect]
     Active Substance: HYDROCORTISONE
     Dosage: 8 DOSAGE FORM, QWEEK
     Route: 048
  316. HYDROCORTISONE [Suspect]
     Active Substance: HYDROCORTISONE
     Dosage: 1 DOSAGE FORM, QD
     Route: 065
     Dates: start: 201807
  317. HYDROCORTISONE [Suspect]
     Active Substance: HYDROCORTISONE
     Route: 065
     Dates: start: 201807
  318. HYDROCORTISONE [Suspect]
     Active Substance: HYDROCORTISONE
     Route: 048
  319. HYDROCORTISONE [Suspect]
     Active Substance: HYDROCORTISONE
     Dosage: UNK 1 EVERY 1 DAYS
     Route: 048
  320. HYDROCORTISONE [Suspect]
     Active Substance: HYDROCORTISONE
     Route: 048
  321. HYDROCORTISONE [Suspect]
     Active Substance: HYDROCORTISONE
     Dosage: 1 DOSAGE FORM, QD
     Route: 048
  322. HYDROCORTISONE [Suspect]
     Active Substance: HYDROCORTISONE
     Route: 048
  323. HYDROCORTISONE [Suspect]
     Active Substance: HYDROCORTISONE
     Route: 048
  324. HYDROCORTISONE [Suspect]
     Active Substance: HYDROCORTISONE
     Route: 061
  325. HYDROCORTISONE [Suspect]
     Active Substance: HYDROCORTISONE
     Route: 048
  326. HYDROCORTISONE [Suspect]
     Active Substance: HYDROCORTISONE
     Route: 048
  327. HYDROCORTISONE [Suspect]
     Active Substance: HYDROCORTISONE
     Route: 048
  328. HYDROCORTISONE [Suspect]
     Active Substance: HYDROCORTISONE
     Route: 065
  329. INFLIXIMAB [Suspect]
     Active Substance: INFLIXIMAB
     Indication: Crohn^s disease
     Route: 042
     Dates: start: 201709
  330. INFLIXIMAB [Suspect]
     Active Substance: INFLIXIMAB
     Indication: Colitis ulcerative
     Route: 042
  331. INFLIXIMAB [Suspect]
     Active Substance: INFLIXIMAB
     Indication: Product used for unknown indication
     Route: 042
  332. INFLIXIMAB [Suspect]
     Active Substance: INFLIXIMAB
     Route: 042
  333. INFLIXIMAB [Suspect]
     Active Substance: INFLIXIMAB
     Route: 042
     Dates: start: 20170119
  334. INFLIXIMAB [Suspect]
     Active Substance: INFLIXIMAB
     Route: 065
  335. INFLIXIMAB [Suspect]
     Active Substance: INFLIXIMAB
     Route: 042
  336. INFLIXIMAB [Suspect]
     Active Substance: INFLIXIMAB
     Route: 065
  337. INFLIXIMAB [Suspect]
     Active Substance: INFLIXIMAB
     Dosage: UNK, Q2W
     Route: 065
  338. INFLIXIMAB [Suspect]
     Active Substance: INFLIXIMAB
     Route: 042
     Dates: start: 20170101, end: 20170901
  339. INFLIXIMAB [Suspect]
     Active Substance: INFLIXIMAB
     Dosage: UNK, Q2W
     Route: 042
  340. INFLIXIMAB [Suspect]
     Active Substance: INFLIXIMAB
     Route: 042
  341. INFLIXIMAB [Suspect]
     Active Substance: INFLIXIMAB
     Route: 042
     Dates: start: 20170101, end: 20170901
  342. INFLIXIMAB [Suspect]
     Active Substance: INFLIXIMAB
     Route: 065
  343. INFLIXIMAB [Suspect]
     Active Substance: INFLIXIMAB
     Route: 042
  344. INFLIXIMAB [Suspect]
     Active Substance: INFLIXIMAB
     Route: 042
  345. INFLIXIMAB [Suspect]
     Active Substance: INFLIXIMAB
     Route: 065
  346. INFLIXIMAB [Suspect]
     Active Substance: INFLIXIMAB
     Route: 065
  347. INFLIXIMAB [Suspect]
     Active Substance: INFLIXIMAB
     Route: 042
  348. INFLIXIMAB [Suspect]
     Active Substance: INFLIXIMAB
     Route: 042
  349. INFLIXIMAB [Suspect]
     Active Substance: INFLIXIMAB
     Route: 042
  350. INFLIXIMAB [Suspect]
     Active Substance: INFLIXIMAB
     Route: 041
  351. INFLIXIMAB [Suspect]
     Active Substance: INFLIXIMAB
     Route: 042
  352. INFLIXIMAB [Suspect]
     Active Substance: INFLIXIMAB
     Route: 041
  353. INFLIXIMAB [Suspect]
     Active Substance: INFLIXIMAB
     Dosage: 1 DOSAGE FORM, Q2W
     Route: 042
  354. INFLIXIMAB [Suspect]
     Active Substance: INFLIXIMAB
     Dosage: 1 DOSAGE FORM, Q2W
     Route: 065
  355. INFLIXIMAB [Suspect]
     Active Substance: INFLIXIMAB
     Route: 042
  356. INFLIXIMAB [Suspect]
     Active Substance: INFLIXIMAB
     Route: 042
  357. INFLIXIMAB [Suspect]
     Active Substance: INFLIXIMAB
     Route: 042
  358. INFLIXIMAB [Suspect]
     Active Substance: INFLIXIMAB
     Route: 042
  359. INFLIXIMAB [Suspect]
     Active Substance: INFLIXIMAB
     Route: 042
  360. INFLIXIMAB [Suspect]
     Active Substance: INFLIXIMAB
     Route: 042
  361. INFLIXIMAB [Suspect]
     Active Substance: INFLIXIMAB
     Route: 042
  362. INFLIXIMAB [Suspect]
     Active Substance: INFLIXIMAB
     Route: 042
  363. INFLIXIMAB [Suspect]
     Active Substance: INFLIXIMAB
     Route: 042
  364. INFLIXIMAB [Suspect]
     Active Substance: INFLIXIMAB
     Route: 042
  365. INFLIXIMAB [Suspect]
     Active Substance: INFLIXIMAB
     Route: 042
  366. INFLIXIMAB [Suspect]
     Active Substance: INFLIXIMAB
     Route: 042
  367. INFLIXIMAB [Suspect]
     Active Substance: INFLIXIMAB
     Route: 042
  368. INFLIXIMAB [Suspect]
     Active Substance: INFLIXIMAB
     Route: 042
  369. INFLIXIMAB [Suspect]
     Active Substance: INFLIXIMAB
     Route: 042
  370. INFLIXIMAB [Suspect]
     Active Substance: INFLIXIMAB
     Route: 042
  371. INFLIXIMAB [Suspect]
     Active Substance: INFLIXIMAB
     Route: 042
  372. INFLIXIMAB [Suspect]
     Active Substance: INFLIXIMAB
     Route: 042
  373. INFLIXIMAB [Suspect]
     Active Substance: INFLIXIMAB
     Route: 042
  374. INFLIXIMAB [Suspect]
     Active Substance: INFLIXIMAB
     Route: 042
  375. INFLIXIMAB [Suspect]
     Active Substance: INFLIXIMAB
     Route: 042
  376. INFLIXIMAB [Suspect]
     Active Substance: INFLIXIMAB
     Route: 042
  377. INFLIXIMAB [Suspect]
     Active Substance: INFLIXIMAB
     Route: 042
  378. INFLIXIMAB [Suspect]
     Active Substance: INFLIXIMAB
     Route: 042
  379. LEVOTHYROXINE SODIUM [Suspect]
     Active Substance: LEVOTHYROXINE SODIUM
     Indication: Product used for unknown indication
     Route: 065
  380. LEVOTHYROXINE SODIUM [Suspect]
     Active Substance: LEVOTHYROXINE SODIUM
     Dosage: 100 MILLIGRAM, QD
     Route: 065
  381. LEVOTHYROXINE SODIUM [Suspect]
     Active Substance: LEVOTHYROXINE SODIUM
     Route: 065
  382. MEBEVERINE HYDROCHLORIDE [Suspect]
     Active Substance: MEBEVERINE HYDROCHLORIDE
     Indication: Product used for unknown indication
     Route: 065
  383. MEBEVERINE HYDROCHLORIDE [Suspect]
     Active Substance: MEBEVERINE HYDROCHLORIDE
     Route: 065
  384. MEBEVERINE HYDROCHLORIDE [Suspect]
     Active Substance: MEBEVERINE HYDROCHLORIDE
     Route: 065
  385. MEBEVERINE HYDROCHLORIDE [Suspect]
     Active Substance: MEBEVERINE HYDROCHLORIDE
     Dosage: 2 DOSAGE FORMS, QD
     Route: 065
  386. MEBEVERINE HYDROCHLORIDE [Suspect]
     Active Substance: MEBEVERINE HYDROCHLORIDE
     Route: 065
  387. MESALAMINE [Suspect]
     Active Substance: MESALAMINE
     Indication: Colitis ulcerative
     Route: 048
  388. MESALAMINE [Suspect]
     Active Substance: MESALAMINE
     Route: 048
  389. MESALAMINE [Suspect]
     Active Substance: MESALAMINE
     Route: 065
  390. MESALAMINE [Suspect]
     Active Substance: MESALAMINE
     Route: 065
  391. MESALAMINE [Suspect]
     Active Substance: MESALAMINE
     Route: 065
  392. MESALAMINE [Suspect]
     Active Substance: MESALAMINE
     Route: 065
  393. MESALAMINE [Suspect]
     Active Substance: MESALAMINE
     Route: 065
  394. MESALAMINE [Suspect]
     Active Substance: MESALAMINE
     Route: 065
  395. MESALAMINE [Suspect]
     Active Substance: MESALAMINE
     Route: 065
  396. MESALAMINE [Suspect]
     Active Substance: MESALAMINE
     Dosage: 1 DOSAGE FORM, QD
     Route: 048
  397. MESALAMINE [Suspect]
     Active Substance: MESALAMINE
     Dosage: 2.4 GRAM, QD
     Route: 065
  398. MESALAMINE [Suspect]
     Active Substance: MESALAMINE
     Dosage: 3 GRAM, QD
     Route: 065
  399. MESALAMINE [Suspect]
     Active Substance: MESALAMINE
     Route: 065
  400. MESALAMINE [Suspect]
     Active Substance: MESALAMINE
     Route: 065
  401. MESALAMINE [Suspect]
     Active Substance: MESALAMINE
     Route: 065
  402. MESALAMINE [Suspect]
     Active Substance: MESALAMINE
     Route: 048
  403. MESALAMINE [Suspect]
     Active Substance: MESALAMINE
     Route: 048
  404. MESALAMINE [Suspect]
     Active Substance: MESALAMINE
     Route: 065
  405. MESALAMINE [Suspect]
     Active Substance: MESALAMINE
     Dosage: 6 DOSAGE FORM, QD
     Route: 065
  406. MESALAMINE [Suspect]
     Active Substance: MESALAMINE
     Route: 048
  407. MESALAMINE [Suspect]
     Active Substance: MESALAMINE
     Dosage: 4.8 MILLIGRAM, QD
     Route: 065
  408. MESALAMINE [Suspect]
     Active Substance: MESALAMINE
     Route: 065
  409. MESALAMINE [Suspect]
     Active Substance: MESALAMINE
     Route: 065
  410. MESALAMINE [Suspect]
     Active Substance: MESALAMINE
     Dosage: UNK UNK, QD
     Route: 065
  411. MESALAMINE [Suspect]
     Active Substance: MESALAMINE
     Dosage: 4.8 MILLIGRAM, 1 DOSE PER 1D
     Route: 065
  412. MESALAMINE [Suspect]
     Active Substance: MESALAMINE
     Route: 065
  413. MESALAMINE [Suspect]
     Active Substance: MESALAMINE
     Route: 065
  414. MESALAMINE [Suspect]
     Active Substance: MESALAMINE
     Route: 048
  415. MESALAMINE [Suspect]
     Active Substance: MESALAMINE
     Dosage: 2.4 GRAM, QD
     Route: 065
  416. MESALAMINE [Suspect]
     Active Substance: MESALAMINE
     Route: 048
  417. MESALAMINE [Suspect]
     Active Substance: MESALAMINE
     Route: 065
  418. MESALAMINE [Suspect]
     Active Substance: MESALAMINE
     Dosage: 6 DOSAGE FORM, QD
     Route: 048
  419. MESALAMINE [Suspect]
     Active Substance: MESALAMINE
     Route: 048
  420. MESALAMINE [Suspect]
     Active Substance: MESALAMINE
     Route: 065
  421. OMEPRAZOLE [Suspect]
     Active Substance: OMEPRAZOLE
     Indication: Gastritis
     Route: 065
  422. OMEPRAZOLE [Suspect]
     Active Substance: OMEPRAZOLE
     Route: 065
  423. OMEPRAZOLE [Suspect]
     Active Substance: OMEPRAZOLE
     Dosage: 20 MILLIGRAM, CAPSULE
     Route: 065
  424. METHOTREXATE [Suspect]
     Active Substance: METHOTREXATE
     Indication: Colitis ulcerative
     Route: 065
  425. METHOTREXATE [Suspect]
     Active Substance: METHOTREXATE
     Route: 065
  426. OXYCODONE [Suspect]
     Active Substance: OXYCODONE
     Indication: Product used for unknown indication
     Route: 065
  427. OXYCODONE [Suspect]
     Active Substance: OXYCODONE
     Route: 065
  428. PARA-AMINOSALICYLIC ACID [Suspect]
     Active Substance: AMINOSALICYLIC ACID
     Indication: Product used for unknown indication
     Route: 048
  429. PARA-AMINOSALICYLIC ACID [Suspect]
     Active Substance: AMINOSALICYLIC ACID
     Indication: Deep vein thrombosis
     Route: 065
  430. PARA-AMINOSALICYLIC ACID [Suspect]
     Active Substance: AMINOSALICYLIC ACID
     Indication: Colitis ulcerative
     Route: 065
  431. VITAMIN D3 [Suspect]
     Active Substance: CHOLECALCIFEROL
     Indication: Product used for unknown indication
     Route: 065
  432. VITAMIN D3 [Suspect]
     Active Substance: CHOLECALCIFEROL
     Route: 065
  433. PREDNISONE [Suspect]
     Active Substance: PREDNISONE
     Indication: Colitis ulcerative
     Route: 065
     Dates: start: 2017
  434. PREDNISONE [Suspect]
     Active Substance: PREDNISONE
     Indication: Product used for unknown indication
     Route: 065
  435. PREDNISONE [Suspect]
     Active Substance: PREDNISONE
     Dosage: 40 MILLIGRAM, 1 DOSE PER 1D
     Route: 065
  436. PREDNISONE [Suspect]
     Active Substance: PREDNISONE
     Dosage: 50 MILLIGRAM, 1 DOSE PER 1D
     Route: 065
  437. PREDNISONE [Suspect]
     Active Substance: PREDNISONE
     Route: 065
     Dates: start: 2009, end: 2009
  438. PREDNISONE [Suspect]
     Active Substance: PREDNISONE
     Route: 065
  439. PREDNISONE [Suspect]
     Active Substance: PREDNISONE
     Route: 065
  440. PREDNISONE [Suspect]
     Active Substance: PREDNISONE
     Route: 065
  441. PREDNISONE [Suspect]
     Active Substance: PREDNISONE
     Route: 065
  442. PREDNISONE [Suspect]
     Active Substance: PREDNISONE
     Route: 065
  443. PREDNISONE [Suspect]
     Active Substance: PREDNISONE
     Route: 065
  444. PREDNISONE [Suspect]
     Active Substance: PREDNISONE
     Route: 065
  445. PREDNISONE [Suspect]
     Active Substance: PREDNISONE
     Route: 065
  446. PREDNISONE [Suspect]
     Active Substance: PREDNISONE
     Route: 065
  447. PREDNISONE [Suspect]
     Active Substance: PREDNISONE
     Route: 065
  448. PREDNISONE [Suspect]
     Active Substance: PREDNISONE
     Route: 065
  449. SULFASALAZINE [Suspect]
     Active Substance: SULFASALAZINE
     Indication: Colitis ulcerative
     Route: 065
  450. SULFASALAZINE [Suspect]
     Active Substance: SULFASALAZINE
     Indication: Arthritis
     Route: 065
  451. SULFASALAZINE [Suspect]
     Active Substance: SULFASALAZINE
     Indication: Product used for unknown indication
     Route: 065
  452. SULFASALAZINE [Suspect]
     Active Substance: SULFASALAZINE
     Route: 065
  453. SULFASALAZINE [Suspect]
     Active Substance: SULFASALAZINE
     Route: 065
  454. SULFASALAZINE [Suspect]
     Active Substance: SULFASALAZINE
     Dosage: 3 MILLIGRAM, 1 DOSE PER 1D
     Route: 048
  455. SULFASALAZINE [Suspect]
     Active Substance: SULFASALAZINE
     Dosage: 5 MILLIGRAM, 1 DOSE PER 1D
     Route: 048
  456. SULFASALAZINE [Suspect]
     Active Substance: SULFASALAZINE
     Route: 065
  457. SULFASALAZINE [Suspect]
     Active Substance: SULFASALAZINE
     Route: 065
     Dates: start: 20160101, end: 20160101
  458. SULFASALAZINE [Suspect]
     Active Substance: SULFASALAZINE
     Route: 065
     Dates: start: 20090101, end: 20160101
  459. SULFASALAZINE [Suspect]
     Active Substance: SULFASALAZINE
     Route: 065
     Dates: start: 201709, end: 201709
  460. SULFASALAZINE [Suspect]
     Active Substance: SULFASALAZINE
     Route: 065
     Dates: start: 2009, end: 2016
  461. SULFASALAZINE [Suspect]
     Active Substance: SULFASALAZINE
     Route: 065
  462. SULFASALAZINE [Suspect]
     Active Substance: SULFASALAZINE
     Route: 065
  463. SULFASALAZINE [Suspect]
     Active Substance: SULFASALAZINE
     Route: 065
  464. SULFASALAZINE [Suspect]
     Active Substance: SULFASALAZINE
     Route: 065
  465. SULFASALAZINE [Suspect]
     Active Substance: SULFASALAZINE
     Route: 065
  466. SULFASALAZINE [Suspect]
     Active Substance: SULFASALAZINE
     Route: 065
  467. SULFASALAZINE [Suspect]
     Active Substance: SULFASALAZINE
     Route: 065
  468. SULFASALAZINE [Suspect]
     Active Substance: SULFASALAZINE
     Route: 065
  469. SULFASALAZINE [Suspect]
     Active Substance: SULFASALAZINE
     Route: 065
  470. SULFASALAZINE [Suspect]
     Active Substance: SULFASALAZINE
     Route: 065
  471. SULFASALAZINE [Suspect]
     Active Substance: SULFASALAZINE
     Route: 065
  472. SULFASALAZINE [Suspect]
     Active Substance: SULFASALAZINE
     Route: 065
  473. SULFASALAZINE [Suspect]
     Active Substance: SULFASALAZINE
     Route: 001
  474. SULFASALAZINE [Suspect]
     Active Substance: SULFASALAZINE
     Dosage: 3 MILLIGRAM, QD
     Route: 048
  475. SULFASALAZINE [Suspect]
     Active Substance: SULFASALAZINE
     Dosage: 3 MILLIGRAM, QD
     Route: 048
  476. SULFASALAZINE [Suspect]
     Active Substance: SULFASALAZINE
     Dosage: 3 MILLIGRAM, QD
     Route: 048
  477. SULFASALAZINE [Suspect]
     Active Substance: SULFASALAZINE
     Route: 048
  478. SULFASALAZINE [Suspect]
     Active Substance: SULFASALAZINE
     Route: 048
  479. SULFASALAZINE [Suspect]
     Active Substance: SULFASALAZINE
     Route: 048
  480. SULFASALAZINE [Suspect]
     Active Substance: SULFASALAZINE
     Route: 048
  481. SULFASALAZINE [Suspect]
     Active Substance: SULFASALAZINE
     Route: 048
  482. SULFASALAZINE [Suspect]
     Active Substance: SULFASALAZINE
     Route: 048
  483. VITAMIN D3 [Suspect]
     Active Substance: CHOLECALCIFEROL
     Indication: Product used for unknown indication
     Route: 065
  484. VITAMIN D3 [Suspect]
     Active Substance: CHOLECALCIFEROL
     Dosage: 100 MILLIGRAM, 1 DOSE PER 1 D
     Route: 065
  485. WARFARIN SODIUM [Suspect]
     Active Substance: WARFARIN SODIUM
     Indication: Deep vein thrombosis
     Route: 048
  486. WARFARIN SODIUM [Suspect]
     Active Substance: WARFARIN SODIUM
     Indication: Colitis ulcerative
     Route: 065
     Dates: start: 2019
  487. WARFARIN SODIUM [Suspect]
     Active Substance: WARFARIN SODIUM
     Indication: Product used for unknown indication
     Dosage: 1 DOSAGE FORM, 1 DOSE PER 1D
     Route: 048
  488. WARFARIN SODIUM [Suspect]
     Active Substance: WARFARIN SODIUM
     Route: 048
  489. WARFARIN SODIUM [Suspect]
     Active Substance: WARFARIN SODIUM
     Route: 048
  490. WARFARIN SODIUM [Suspect]
     Active Substance: WARFARIN SODIUM
     Route: 048
  491. WARFARIN SODIUM [Suspect]
     Active Substance: WARFARIN SODIUM
     Dosage: 32 DOSAGE FORM, QD, 8 DOSAGE FORM, 1 EVERY 8 WEEKS
     Route: 048
  492. WARFARIN SODIUM [Suspect]
     Active Substance: WARFARIN SODIUM
     Route: 048
  493. WARFARIN SODIUM [Suspect]
     Active Substance: WARFARIN SODIUM
     Route: 048
  494. WARFARIN SODIUM [Suspect]
     Active Substance: WARFARIN SODIUM
     Route: 048
  495. WARFARIN SODIUM [Suspect]
     Active Substance: WARFARIN SODIUM
     Route: 065
  496. WARFARIN SODIUM [Suspect]
     Active Substance: WARFARIN SODIUM
     Route: 065
  497. WARFARIN SODIUM [Suspect]
     Active Substance: WARFARIN SODIUM
     Route: 065
  498. WARFARIN SODIUM [Suspect]
     Active Substance: WARFARIN SODIUM
     Route: 048
  499. WARFARIN SODIUM [Suspect]
     Active Substance: WARFARIN SODIUM
     Route: 048
  500. WARFARIN SODIUM [Suspect]
     Active Substance: WARFARIN SODIUM
     Route: 048
  501. WARFARIN SODIUM [Suspect]
     Active Substance: WARFARIN SODIUM
     Route: 048
  502. WARFARIN SODIUM [Suspect]
     Active Substance: WARFARIN SODIUM
     Route: 048
  503. WARFARIN SODIUM [Suspect]
     Active Substance: WARFARIN SODIUM
     Route: 048
  504. WARFARIN SODIUM [Suspect]
     Active Substance: WARFARIN SODIUM
     Route: 048
  505. WARFARIN SODIUM [Suspect]
     Active Substance: WARFARIN SODIUM
     Route: 048
  506. WARFARIN SODIUM [Suspect]
     Active Substance: WARFARIN SODIUM
     Route: 048
  507. WARFARIN SODIUM [Suspect]
     Active Substance: WARFARIN SODIUM
     Route: 048
  508. WARFARIN SODIUM [Suspect]
     Active Substance: WARFARIN SODIUM
     Route: 048
  509. WARFARIN SODIUM [Suspect]
     Active Substance: WARFARIN SODIUM
     Route: 048
  510. WARFARIN SODIUM [Suspect]
     Active Substance: WARFARIN SODIUM
     Route: 048
  511. WARFARIN SODIUM [Suspect]
     Active Substance: WARFARIN SODIUM
     Route: 048
  512. WARFARIN SODIUM [Suspect]
     Active Substance: WARFARIN SODIUM
     Route: 048
  513. WARFARIN SODIUM [Suspect]
     Active Substance: WARFARIN SODIUM
     Route: 048
  514. WARFARIN SODIUM [Suspect]
     Active Substance: WARFARIN SODIUM
     Route: 048
  515. WARFARIN SODIUM [Suspect]
     Active Substance: WARFARIN SODIUM
     Route: 048
  516. WARFARIN SODIUM [Suspect]
     Active Substance: WARFARIN SODIUM
     Route: 048
  517. WARFARIN SODIUM [Suspect]
     Active Substance: WARFARIN SODIUM
     Route: 048
  518. WARFARIN SODIUM [Suspect]
     Active Substance: WARFARIN SODIUM
     Route: 048
  519. WARFARIN SODIUM [Suspect]
     Active Substance: WARFARIN SODIUM
     Route: 048
  520. WARFARIN SODIUM [Suspect]
     Active Substance: WARFARIN SODIUM
     Route: 048
  521. ASPIRIN [Suspect]
     Active Substance: ASPIRIN
     Indication: Product used for unknown indication
     Route: 065
  522. ASPIRIN [Suspect]
     Active Substance: ASPIRIN
     Indication: Ill-defined disorder
     Route: 065
  523. TOZINAMERAN [Suspect]
     Active Substance: TOZINAMERAN
     Indication: Product used for unknown indication
     Route: 065
     Dates: start: 20220322, end: 20220322
  524. TOZINAMERAN [Suspect]
     Active Substance: TOZINAMERAN
     Route: 065
     Dates: start: 20220322, end: 20220322
  525. TOZINAMERAN [Suspect]
     Active Substance: TOZINAMERAN
     Route: 065
  526. CHOLECALCIFEROL [Suspect]
     Active Substance: CHOLECALCIFEROL
     Indication: Product used for unknown indication
     Route: 065
  527. CANDESARTAN [Suspect]
     Active Substance: CANDESARTAN
     Indication: Product used for unknown indication
     Route: 048
     Dates: start: 20230412
  528. CANDESARTAN [Suspect]
     Active Substance: CANDESARTAN
     Indication: Colitis ulcerative
  529. LISDEXAMFETAMINE DIMESYLATE [Suspect]
     Active Substance: LISDEXAMFETAMINE DIMESYLATE
     Indication: Product used for unknown indication
     Route: 065
  530. WARFARIN SODIUM [Suspect]
     Active Substance: WARFARIN SODIUM
     Indication: Colitis ulcerative
     Route: 048
     Dates: start: 201707
  531. WARFARIN SODIUM [Suspect]
     Active Substance: WARFARIN SODIUM
     Indication: Deep vein thrombosis
     Dosage: 1 DOSAGE FORM, QD
     Route: 048
     Dates: start: 201707
  532. WARFARIN SODIUM [Suspect]
     Active Substance: WARFARIN SODIUM
     Route: 048
     Dates: start: 2009, end: 2009
  533. WARFARIN SODIUM [Suspect]
     Active Substance: WARFARIN SODIUM
     Route: 048
     Dates: start: 2009, end: 2009
  534. WARFARIN SODIUM [Suspect]
     Active Substance: WARFARIN SODIUM
     Route: 065
     Dates: start: 2019
  535. OMEPRAZOLE [Suspect]
     Active Substance: OMEPRAZOLE
     Indication: Gastritis
     Route: 065
  536. WARFARIN [Suspect]
     Active Substance: WARFARIN
     Indication: Deep vein thrombosis
     Route: 065
     Dates: start: 2009
  537. WARFARIN [Suspect]
     Active Substance: WARFARIN
     Indication: Colitis ulcerative
     Dosage: 8 DOSAGE FORM, 1 DOSE PER 1 D
     Route: 048
     Dates: start: 2009
  538. WARFARIN [Suspect]
     Active Substance: WARFARIN
     Route: 048
  539. WARFARIN [Suspect]
     Active Substance: WARFARIN
     Dosage: 1 DOSAGE FORM, 1 DOSE PER 1 D
     Route: 048
     Dates: start: 2009
  540. WARFARIN [Suspect]
     Active Substance: WARFARIN
     Route: 048
     Dates: start: 2009
  541. WARFARIN [Suspect]
     Active Substance: WARFARIN
     Dosage: 1 DOSAGE FORM, 1 EVERY 1 DAYS
     Route: 065
     Dates: start: 2009
  542. WARFARIN [Suspect]
     Active Substance: WARFARIN
     Dosage: 1 DOSAGE FORM, 1 EVERY 1 DAYS
     Route: 065
     Dates: start: 2009
  543. WARFARIN [Suspect]
     Active Substance: WARFARIN
     Route: 065
     Dates: start: 2009
  544. WARFARIN [Suspect]
     Active Substance: WARFARIN
     Route: 065
  545. WARFARIN [Suspect]
     Active Substance: WARFARIN
     Route: 048
  546. WARFARIN [Suspect]
     Active Substance: WARFARIN
     Route: 048
  547. WARFARIN [Suspect]
     Active Substance: WARFARIN
     Route: 048
  548. WARFARIN [Suspect]
     Active Substance: WARFARIN
     Route: 048
  549. WARFARIN [Suspect]
     Active Substance: WARFARIN
     Route: 048
  550. WARFARIN [Suspect]
     Active Substance: WARFARIN
     Route: 048
  551. WARFARIN [Suspect]
     Active Substance: WARFARIN
     Route: 048
     Dates: start: 2009
  552. WARFARIN [Suspect]
     Active Substance: WARFARIN
     Route: 048
     Dates: start: 2009
  553. WARFARIN [Suspect]
     Active Substance: WARFARIN
     Route: 048
     Dates: start: 2009
  554. WARFARIN [Suspect]
     Active Substance: WARFARIN
     Route: 048
     Dates: start: 2009
  555. WARFARIN [Suspect]
     Active Substance: WARFARIN
     Route: 048
     Dates: start: 2009
  556. WARFARIN [Suspect]
     Active Substance: WARFARIN
     Route: 048
     Dates: start: 2009
  557. WARFARIN [Suspect]
     Active Substance: WARFARIN
     Route: 048
     Dates: start: 2009
  558. WARFARIN [Suspect]
     Active Substance: WARFARIN
     Route: 048
     Dates: start: 2009
  559. WARFARIN [Suspect]
     Active Substance: WARFARIN
     Route: 048
     Dates: start: 2009
  560. WARFARIN [Suspect]
     Active Substance: WARFARIN
     Route: 048
     Dates: start: 2009
  561. WARFARIN [Suspect]
     Active Substance: WARFARIN
     Route: 048
     Dates: start: 2009
  562. WARFARIN [Suspect]
     Active Substance: WARFARIN
     Route: 048
     Dates: start: 2009
  563. WARFARIN [Suspect]
     Active Substance: WARFARIN
     Route: 048
     Dates: start: 2009
  564. WARFARIN [Suspect]
     Active Substance: WARFARIN
     Indication: Deep vein thrombosis
     Route: 065
     Dates: start: 2009
  565. WARFARIN [Suspect]
     Active Substance: WARFARIN
     Indication: Colitis ulcerative
     Dosage: 8 DOSAGE FORM, 1 DOSE PER 1 D
     Route: 048
     Dates: start: 2009
  566. WARFARIN [Suspect]
     Active Substance: WARFARIN
     Indication: Product used for unknown indication
     Route: 048
  567. WARFARIN [Suspect]
     Active Substance: WARFARIN
     Dosage: 1 DOSAGE FORM, 1 DOSE PER 1 D
     Route: 048
     Dates: start: 2009
  568. WARFARIN [Suspect]
     Active Substance: WARFARIN
     Route: 048
     Dates: start: 2009
  569. WARFARIN [Suspect]
     Active Substance: WARFARIN
     Route: 048
     Dates: start: 2009
  570. WARFARIN [Suspect]
     Active Substance: WARFARIN
     Route: 065
  571. WARFARIN [Suspect]
     Active Substance: WARFARIN
     Dosage: 1 DOSAGE FORM, QD
     Route: 048
  572. WARFARIN [Suspect]
     Active Substance: WARFARIN
     Dosage: 1 DOSAGE FORM, QD
     Route: 048
  573. WARFARIN [Suspect]
     Active Substance: WARFARIN
     Route: 065
  574. WARFARIN [Suspect]
     Active Substance: WARFARIN
     Route: 048
  575. WARFARIN [Suspect]
     Active Substance: WARFARIN
     Route: 048
  576. WARFARIN [Suspect]
     Active Substance: WARFARIN
     Dosage: 1 DOSAGE FORM, QD
     Route: 048
  577. WARFARIN [Suspect]
     Active Substance: WARFARIN
     Route: 048
  578. WARFARIN [Suspect]
     Active Substance: WARFARIN
     Route: 048
  579. WARFARIN [Suspect]
     Active Substance: WARFARIN
     Route: 048
  580. WARFARIN [Suspect]
     Active Substance: WARFARIN
     Dosage: 8 DOSAGE FORM, QD
     Route: 048
  581. WARFARIN [Suspect]
     Active Substance: WARFARIN
     Dosage: 1 DOSAGE FORM, QD
     Route: 048
  582. WARFARIN [Suspect]
     Active Substance: WARFARIN
     Route: 048
  583. WARFARIN [Suspect]
     Active Substance: WARFARIN
     Route: 065
  584. PULMICORT TURBUHALER [Suspect]
     Active Substance: BUDESONIDE
     Indication: Colitis ulcerative
     Route: 065
  585. PULMICORT TURBUHALER [Suspect]
     Active Substance: BUDESONIDE
     Indication: Product used for unknown indication
     Dosage: 1 DOSAGE FORMS, QD
     Route: 048
  586. PULMICORT TURBUHALER [Suspect]
     Active Substance: BUDESONIDE
     Route: 048
  587. PULMICORT TURBUHALER [Suspect]
     Active Substance: BUDESONIDE
     Route: 048
  588. PULMICORT TURBUHALER [Suspect]
     Active Substance: BUDESONIDE
     Route: 048
  589. PULMICORT TURBUHALER [Suspect]
     Active Substance: BUDESONIDE
     Route: 048
  590. PULMICORT TURBUHALER [Suspect]
     Active Substance: BUDESONIDE
     Route: 048
  591. PULMICORT TURBUHALER [Suspect]
     Active Substance: BUDESONIDE
     Dosage: 1 DOSAGE FORMS, QD
     Route: 048
  592. PULMICORT TURBUHALER [Suspect]
     Active Substance: BUDESONIDE
     Dosage: 245.0 DOSAGE FORMS
     Route: 048
  593. PULMICORT TURBUHALER [Suspect]
     Active Substance: BUDESONIDE
     Route: 048
  594. PULMICORT TURBUHALER [Suspect]
     Active Substance: BUDESONIDE
     Route: 048
  595. PULMICORT TURBUHALER [Suspect]
     Active Substance: BUDESONIDE
     Route: 048
  596. PULMICORT TURBUHALER [Suspect]
     Active Substance: BUDESONIDE
     Route: 048
  597. PULMICORT TURBUHALER [Suspect]
     Active Substance: BUDESONIDE
     Route: 048
  598. PULMICORT TURBUHALER [Suspect]
     Active Substance: BUDESONIDE
     Dosage: 1 DOSAGE FORMS, QD
     Route: 048
  599. PULMICORT TURBUHALER [Suspect]
     Active Substance: BUDESONIDE
     Dosage: 1 DOSAGE FORMS, QD
     Route: 048
  600. PULMICORT TURBUHALER [Suspect]
     Active Substance: BUDESONIDE
     Route: 065
  601. PULMICORT TURBUHALER [Suspect]
     Active Substance: BUDESONIDE
     Route: 065
  602. PULMICORT TURBUHALER [Suspect]
     Active Substance: BUDESONIDE
     Route: 065
  603. PULMICORT TURBUHALER [Suspect]
     Active Substance: BUDESONIDE
     Route: 048
  604. PULMICORT TURBUHALER [Suspect]
     Active Substance: BUDESONIDE
     Dosage: 1 DOSAGE FORMS, QD
     Route: 065
  605. PULMICORT TURBUHALER [Suspect]
     Active Substance: BUDESONIDE
     Route: 048
  606. VEDOLIZUMAB [Suspect]
     Active Substance: VEDOLIZUMAB
     Indication: Colitis ulcerative
     Dosage: 1 DOSAGE FORM, QD
     Route: 048
  607. VEDOLIZUMAB [Suspect]
     Active Substance: VEDOLIZUMAB
     Indication: Deep vein thrombosis
     Route: 042
     Dates: start: 2017, end: 2017
  608. MESALAMINE [Suspect]
     Active Substance: MESALAMINE
     Indication: Colitis ulcerative
     Route: 048
     Dates: start: 20160101, end: 20160101
  609. MESALAMINE [Suspect]
     Active Substance: MESALAMINE
     Route: 048
     Dates: start: 20160101, end: 201610
  610. MESALAMINE [Suspect]
     Active Substance: MESALAMINE
     Route: 065
     Dates: start: 201601, end: 201610
  611. MESALAMINE [Suspect]
     Active Substance: MESALAMINE
     Route: 065
  612. MESALAMINE [Suspect]
     Active Substance: MESALAMINE
     Route: 065
     Dates: start: 201601
  613. MESALAMINE [Suspect]
     Active Substance: MESALAMINE
     Dosage: 50 MILLIGRAM, 1 DOSE PER 1 D
     Route: 065
  614. MESALAMINE [Suspect]
     Active Substance: MESALAMINE
     Dosage: 3 DOSAGE FORM, 2 DOSE PER 1 D
     Route: 065
  615. MESALAMINE [Suspect]
     Active Substance: MESALAMINE
     Dosage: 6 DOSAGE FORM, 1 DOSE PER 1 D
     Route: 065
  616. MESALAMINE [Suspect]
     Active Substance: MESALAMINE
     Route: 065
  617. MESALAMINE [Suspect]
     Active Substance: MESALAMINE
     Dosage: 40 MILLIGRAM, 1 DOSE PER 1 D
     Route: 065
  618. MESALAMINE [Suspect]
     Active Substance: MESALAMINE
     Dosage: 1 DOSAGE FORM, 1 DOSE PER 1 D
     Route: 065
  619. MESALAMINE [Suspect]
     Active Substance: MESALAMINE
     Route: 065
  620. MESALAMINE [Suspect]
     Active Substance: MESALAMINE
     Dosage: 12 DOSAGE FORM, 1 DOSE PER 1 D
     Route: 065
  621. MESALAMINE [Suspect]
     Active Substance: MESALAMINE
     Dosage: 4.8 GRAM, 1 DOSE PER 1 D
     Route: 065
  622. MESALAMINE [Suspect]
     Active Substance: MESALAMINE
     Dosage: 30 DOSAGE FORM, 2 DOSE PER 1 D
     Route: 065
  623. MESALAMINE [Suspect]
     Active Substance: MESALAMINE
     Dosage: 3 GRAM, 1 DOSE PER 1 D
     Route: 065
  624. MESALAMINE [Suspect]
     Active Substance: MESALAMINE
     Dosage: 24 DOSAGE FORM, 1 DOSE PER 1 D
     Route: 065
  625. MESALAMINE [Suspect]
     Active Substance: MESALAMINE
     Dosage: 6 DOSAGE FORM, 2 DOSE PER 1 D
     Route: 065
  626. MESALAMINE [Suspect]
     Active Substance: MESALAMINE
     Dosage: 2.4 GRAM, TABLET
     Route: 065
     Dates: start: 201601
  627. MESALAMINE [Suspect]
     Active Substance: MESALAMINE
     Route: 048
  628. MESALAMINE [Suspect]
     Active Substance: MESALAMINE
     Route: 048
  629. MESALAMINE [Suspect]
     Active Substance: MESALAMINE
     Indication: Colitis ulcerative
     Route: 065
     Dates: start: 20161001
  630. MESALAMINE [Suspect]
     Active Substance: MESALAMINE
     Dosage: 2.4 GRAM, QD
     Route: 065
     Dates: start: 20161001
  631. MESALAMINE [Suspect]
     Active Substance: MESALAMINE
     Route: 065
     Dates: start: 2017, end: 201709
  632. MESALAMINE [Suspect]
     Active Substance: MESALAMINE
     Route: 065
     Dates: start: 201610
  633. MESALAMINE [Suspect]
     Active Substance: MESALAMINE
     Route: 065
     Dates: start: 20170101, end: 20170901
  634. MESALAMINE [Suspect]
     Active Substance: MESALAMINE
     Route: 065
     Dates: start: 20170101, end: 20170901
  635. MESALAMINE [Suspect]
     Active Substance: MESALAMINE
     Route: 065
     Dates: start: 20160101, end: 20161001
  636. MESALAMINE [Suspect]
     Active Substance: MESALAMINE
     Route: 048
     Dates: start: 20160101, end: 20161001
  637. MESALAMINE [Suspect]
     Active Substance: MESALAMINE
     Dosage: 4.8 GRAM, QD
     Route: 065
     Dates: start: 20161001
  638. MESALAMINE [Suspect]
     Active Substance: MESALAMINE
     Route: 065
     Dates: start: 201709
  639. MESALAMINE [Suspect]
     Active Substance: MESALAMINE
     Route: 065
     Dates: start: 201709, end: 201709
  640. MESALAMINE [Suspect]
     Active Substance: MESALAMINE
     Route: 048
     Dates: start: 20161001
  641. MESALAMINE [Suspect]
     Active Substance: MESALAMINE
     Route: 065
  642. MESALAMINE [Suspect]
     Active Substance: MESALAMINE
     Route: 065
  643. MESALAMINE [Suspect]
     Active Substance: MESALAMINE
     Route: 065
  644. MESALAMINE [Suspect]
     Active Substance: MESALAMINE
     Route: 065
  645. MESALAMINE [Suspect]
     Active Substance: MESALAMINE
     Route: 065
  646. MESALAMINE [Suspect]
     Active Substance: MESALAMINE
     Route: 065
  647. MESALAMINE [Suspect]
     Active Substance: MESALAMINE
     Route: 065
  648. MESALAMINE [Suspect]
     Active Substance: MESALAMINE
     Route: 065
  649. MESALAMINE [Suspect]
     Active Substance: MESALAMINE
     Route: 065
  650. VITAMIN D NOS [Suspect]
     Active Substance: CHOLECALCIFEROL\ERGOCALCIFEROL
     Indication: Product used for unknown indication
     Route: 065
  651. VITAMIN D NOS [Suspect]
     Active Substance: CHOLECALCIFEROL\ERGOCALCIFEROL
     Route: 065
  652. ESCITALOPRAM [Suspect]
     Active Substance: ESCITALOPRAM OXALATE
     Indication: Product used for unknown indication
     Route: 065
  653. ESCITALOPRAM [Suspect]
     Active Substance: ESCITALOPRAM OXALATE
     Route: 065
  654. FUROSEMIDE [Suspect]
     Active Substance: FUROSEMIDE
     Indication: Product used for unknown indication
     Route: 065
  655. FUROSEMIDE [Suspect]
     Active Substance: FUROSEMIDE
     Dosage: 20 MILLIGRAM, 1 DOSE PER 1 D
     Route: 065
  656. ACETAMINOPHEN [Suspect]
     Active Substance: ACETAMINOPHEN
     Indication: Ill-defined disorder
     Dosage: 500 MILLIGRAM, 4 DOSE PER 1 D
     Route: 065
  657. ACETAMINOPHEN [Suspect]
     Active Substance: ACETAMINOPHEN
     Route: 065
  658. ACETAMINOPHEN [Suspect]
     Active Substance: ACETAMINOPHEN
     Route: 065
  659. ACETAMINOPHEN [Suspect]
     Active Substance: ACETAMINOPHEN
     Route: 065
  660. ACETAMINOPHEN [Suspect]
     Active Substance: ACETAMINOPHEN
     Route: 065
  661. OMEPRAZOLE [Suspect]
     Active Substance: OMEPRAZOLE
     Indication: Gastritis
     Route: 065
  662. OMEPRAZOLE [Suspect]
     Active Substance: OMEPRAZOLE
     Indication: Product used for unknown indication
     Route: 065
  663. OMEPRAZOLE [Suspect]
     Active Substance: OMEPRAZOLE
     Route: 065
  664. OMEPRAZOLE [Suspect]
     Active Substance: OMEPRAZOLE
     Route: 065
  665. ROSUVASTATIN [Suspect]
     Active Substance: ROSUVASTATIN
     Indication: Blood cholesterol increased
     Route: 065
  666. ROSUVASTATIN [Suspect]
     Active Substance: ROSUVASTATIN
     Indication: Ill-defined disorder
     Route: 065
  667. ROSUVASTATIN [Suspect]
     Active Substance: ROSUVASTATIN
     Dosage: 10 MILLIGRAM, 1 DOSE PER 1 D
     Route: 065
  668. HUMIRA [Suspect]
     Active Substance: ADALIMUMAB
     Indication: Deep vein thrombosis
     Route: 065
  669. HUMIRA [Suspect]
     Active Substance: ADALIMUMAB
     Indication: Crohn^s disease
     Route: 065
  670. HUMIRA [Suspect]
     Active Substance: ADALIMUMAB
     Indication: Colitis ulcerative
     Route: 065
  671. HUMIRA [Suspect]
     Active Substance: ADALIMUMAB
     Indication: Product used for unknown indication
     Route: 065
  672. HUMIRA [Suspect]
     Active Substance: ADALIMUMAB
     Route: 048
     Dates: start: 201707
  673. HUMIRA [Suspect]
     Active Substance: ADALIMUMAB
     Route: 058
  674. HUMIRA [Suspect]
     Active Substance: ADALIMUMAB
     Route: 058
  675. HUMIRA [Suspect]
     Active Substance: ADALIMUMAB
     Route: 065
  676. HUMIRA [Suspect]
     Active Substance: ADALIMUMAB
     Route: 065
  677. HUMIRA [Suspect]
     Active Substance: ADALIMUMAB
     Route: 065
  678. HUMIRA [Suspect]
     Active Substance: ADALIMUMAB
     Route: 048
  679. HUMIRA [Suspect]
     Active Substance: ADALIMUMAB
     Route: 058
  680. HYDROCORTISONE [Suspect]
     Active Substance: HYDROCORTISONE
     Indication: Product used for unknown indication
     Dosage: 8 DOSAGE FORMS, QD
     Route: 048
  681. HYDROCORTISONE [Suspect]
     Active Substance: HYDROCORTISONE
     Route: 048
  682. HYDROCORTISONE [Suspect]
     Active Substance: HYDROCORTISONE
     Route: 065
  683. HYDROCORTISONE [Suspect]
     Active Substance: HYDROCORTISONE
     Dosage: 1 DOSAGE FORMS, QD
     Route: 048
  684. HYDROCORTISONE [Suspect]
     Active Substance: HYDROCORTISONE
     Dosage: 2 DOSAGE FORMS, QD
     Route: 065
  685. HYDROCORTISONE [Suspect]
     Active Substance: HYDROCORTISONE
     Route: 065
  686. HYDROCORTISONE [Suspect]
     Active Substance: HYDROCORTISONE
     Route: 048
  687. HYDROCORTISONE [Suspect]
     Active Substance: HYDROCORTISONE
     Dosage: 8 DOSAGE FORMS, QWEEK
     Route: 048
  688. HYDROCORTISONE [Suspect]
     Active Substance: HYDROCORTISONE
     Route: 065
  689. HYDROCORTISONE [Suspect]
     Active Substance: HYDROCORTISONE
     Dosage: 6 DOSAGE FORMS, QD
     Route: 048
  690. VYVANSE [Suspect]
     Active Substance: LISDEXAMFETAMINE DIMESYLATE
     Indication: Attention deficit hyperactivity disorder
     Route: 065
  691. COMIRNATY (TOZINAMERAN) [Suspect]
     Active Substance: TOZINAMERAN
     Indication: Product used for unknown indication
     Route: 065
  692. INFLECTRA [Suspect]
     Active Substance: INFLIXIMAB-DYYB
     Indication: Crohn^s disease
     Route: 065
  693. INFLECTRA [Suspect]
     Active Substance: INFLIXIMAB-DYYB
     Indication: Colitis ulcerative
     Route: 048
  694. INFLECTRA [Suspect]
     Active Substance: INFLIXIMAB-DYYB
     Route: 042
  695. INFLECTRA [Suspect]
     Active Substance: INFLIXIMAB-DYYB
     Route: 065
  696. INFLECTRA [Suspect]
     Active Substance: INFLIXIMAB-DYYB
     Route: 048
  697. INFLECTRA [Suspect]
     Active Substance: INFLIXIMAB-DYYB
     Route: 042
  698. INFLECTRA [Suspect]
     Active Substance: INFLIXIMAB-DYYB
     Route: 065
  699. INFLECTRA [Suspect]
     Active Substance: INFLIXIMAB-DYYB
     Route: 065
  700. INFLECTRA [Suspect]
     Active Substance: INFLIXIMAB-DYYB
     Route: 065
  701. MESALAMINE [Suspect]
     Active Substance: MESALAMINE
     Indication: Product used for unknown indication
     Route: 065
  702. DESOXIMETASONE [Suspect]
     Active Substance: DESOXIMETASONE
     Indication: Crohn^s disease
     Dosage: 1 DOSAGE FORM, QD
     Route: 065
  703. DESOXIMETASONE [Suspect]
     Active Substance: DESOXIMETASONE
     Indication: Colitis ulcerative
     Route: 065
  704. DESOXIMETASONE [Suspect]
     Active Substance: DESOXIMETASONE
     Indication: Product used for unknown indication
     Dosage: 8 DOSAGE FORM, QD
     Route: 065
  705. DESOXIMETASONE [Suspect]
     Active Substance: DESOXIMETASONE
     Route: 065
  706. DESOXIMETASONE [Suspect]
     Active Substance: DESOXIMETASONE
     Route: 065
  707. DESOXIMETASONE [Suspect]
     Active Substance: DESOXIMETASONE
     Route: 065
  708. DESOXIMETASONE [Suspect]
     Active Substance: DESOXIMETASONE
     Dosage: 1 DOSAGE FORM, QD
     Route: 048
  709. DESOXIMETASONE [Suspect]
     Active Substance: DESOXIMETASONE
     Route: 048
  710. DESOXIMETASONE [Suspect]
     Active Substance: DESOXIMETASONE
     Route: 048
  711. DESOXIMETASONE [Suspect]
     Active Substance: DESOXIMETASONE
     Route: 048
  712. DESOXIMETASONE [Suspect]
     Active Substance: DESOXIMETASONE
     Route: 048
  713. DESOXIMETASONE [Suspect]
     Active Substance: DESOXIMETASONE
     Route: 065
  714. DESOXIMETASONE [Suspect]
     Active Substance: DESOXIMETASONE
     Route: 065
  715. DESOXIMETASONE [Suspect]
     Active Substance: DESOXIMETASONE
     Route: 065
  716. DESOXIMETASONE [Suspect]
     Active Substance: DESOXIMETASONE
     Route: 065
  717. DESOXIMETASONE [Suspect]
     Active Substance: DESOXIMETASONE
     Route: 065
  718. DESOXIMETASONE [Suspect]
     Active Substance: DESOXIMETASONE
     Route: 048
  719. DESOXIMETASONE [Suspect]
     Active Substance: DESOXIMETASONE
     Dosage: 1 DOSAGE FORM, QD
     Route: 048
  720. DESOXIMETASONE [Suspect]
     Active Substance: DESOXIMETASONE
     Route: 042
  721. DESOXIMETASONE [Suspect]
     Active Substance: DESOXIMETASONE
     Route: 048
  722. DESOXIMETASONE [Suspect]
     Active Substance: DESOXIMETASONE
     Route: 065
  723. DESOXIMETASONE [Suspect]
     Active Substance: DESOXIMETASONE
     Route: 065
  724. DESOXIMETASONE [Suspect]
     Active Substance: DESOXIMETASONE
     Dosage: 1 DOSAGE FORM, QD
     Route: 048
  725. DESOXIMETASONE [Suspect]
     Active Substance: DESOXIMETASONE
     Route: 048
  726. DESOXIMETASONE [Suspect]
     Active Substance: DESOXIMETASONE
     Route: 065
  727. DESOXIMETASONE [Suspect]
     Active Substance: DESOXIMETASONE
     Route: 048
  728. DESOXIMETASONE [Suspect]
     Active Substance: DESOXIMETASONE
     Route: 065
  729. DESOXIMETASONE [Suspect]
     Active Substance: DESOXIMETASONE
     Route: 065
  730. DESOXIMETASONE [Suspect]
     Active Substance: DESOXIMETASONE
     Dosage: 8 DOSAGE FORM, QD
     Route: 048
  731. DESOXIMETASONE [Suspect]
     Active Substance: DESOXIMETASONE
     Route: 048
  732. DESOXIMETASONE [Suspect]
     Active Substance: DESOXIMETASONE
     Route: 048
  733. DESOXIMETASONE [Suspect]
     Active Substance: DESOXIMETASONE
     Route: 065
  734. DESOXIMETASONE [Suspect]
     Active Substance: DESOXIMETASONE
     Dosage: 1 DOSAGE FORM, QD
     Route: 065
  735. DESOXIMETASONE [Suspect]
     Active Substance: DESOXIMETASONE
     Route: 065
  736. DESOXIMETASONE [Suspect]
     Active Substance: DESOXIMETASONE
     Route: 048
  737. DESOXIMETASONE [Suspect]
     Active Substance: DESOXIMETASONE
     Route: 048
  738. BUDESONIDE [Suspect]
     Active Substance: BUDESONIDE
     Indication: Colitis ulcerative
     Dosage: 1 DOSAGE FORMS 1 EVERY 1 DAYS
     Route: 065
  739. BUDESONIDE [Suspect]
     Active Substance: BUDESONIDE
     Indication: Product used for unknown indication
     Route: 065
  740. BUDESONIDE [Suspect]
     Active Substance: BUDESONIDE
     Route: 065
  741. BUDESONIDE [Suspect]
     Active Substance: BUDESONIDE
     Route: 048
  742. BUDESONIDE [Suspect]
     Active Substance: BUDESONIDE
     Route: 048
  743. BUDESONIDE [Suspect]
     Active Substance: BUDESONIDE
     Dosage: 1 DOSAGE FORMS 1 EVERY 1 DAYS
     Route: 048
  744. BUDESONIDE [Suspect]
     Active Substance: BUDESONIDE
     Dosage: UNK, QID
     Route: 065
  745. BUDESONIDE [Suspect]
     Active Substance: BUDESONIDE
     Route: 065
  746. BUDESONIDE [Suspect]
     Active Substance: BUDESONIDE
     Route: 065
  747. BUDESONIDE [Suspect]
     Active Substance: BUDESONIDE
     Route: 065
  748. BUDESONIDE [Suspect]
     Active Substance: BUDESONIDE
     Dosage: UNK, QD
     Route: 065
  749. BUDESONIDE [Suspect]
     Active Substance: BUDESONIDE
     Route: 048
     Dates: start: 201707
  750. BUDESONIDE [Suspect]
     Active Substance: BUDESONIDE
     Route: 065
  751. BUDESONIDE [Suspect]
     Active Substance: BUDESONIDE
     Route: 048
  752. BUDESONIDE [Suspect]
     Active Substance: BUDESONIDE
     Dosage: 8 DOSAGE FORMS, QD
     Route: 048
  753. BUDESONIDE [Suspect]
     Active Substance: BUDESONIDE
     Route: 048
  754. BUDESONIDE [Suspect]
     Active Substance: BUDESONIDE
     Route: 048
  755. BUDESONIDE [Suspect]
     Active Substance: BUDESONIDE
     Route: 048
  756. BUDESONIDE [Suspect]
     Active Substance: BUDESONIDE
     Route: 048
  757. BUDESONIDE [Suspect]
     Active Substance: BUDESONIDE
     Route: 065
  758. MESALAMINE [Suspect]
     Active Substance: MESALAMINE
     Indication: Colitis ulcerative
     Route: 065
  759. MESALAMINE [Suspect]
     Active Substance: MESALAMINE
     Indication: Product used for unknown indication
     Route: 065
  760. MESALAMINE [Suspect]
     Active Substance: MESALAMINE
     Route: 065
  761. MESALAMINE [Suspect]
     Active Substance: MESALAMINE
     Route: 065
  762. MESALAMINE [Suspect]
     Active Substance: MESALAMINE
     Route: 065
  763. MESALAMINE [Suspect]
     Active Substance: MESALAMINE
     Route: 065
  764. MESALAMINE [Suspect]
     Active Substance: MESALAMINE
     Dosage: 50 MG, QD
     Route: 065
  765. MESALAMINE [Suspect]
     Active Substance: MESALAMINE
     Route: 065
  766. MESALAMINE [Suspect]
     Active Substance: MESALAMINE
     Route: 065
  767. MESALAMINE [Suspect]
     Active Substance: MESALAMINE
     Route: 065
  768. MESALAMINE [Suspect]
     Active Substance: MESALAMINE
     Dosage: 4.8 GRAM, QD
     Route: 065
  769. MESALAMINE [Suspect]
     Active Substance: MESALAMINE
     Route: 065
  770. MESALAMINE [Suspect]
     Active Substance: MESALAMINE
     Route: 048
  771. MESALAMINE [Suspect]
     Active Substance: MESALAMINE
     Route: 065
  772. MESALAMINE [Suspect]
     Active Substance: MESALAMINE
     Route: 065
  773. MESALAMINE [Suspect]
     Active Substance: MESALAMINE
     Route: 065
  774. MESALAMINE [Suspect]
     Active Substance: MESALAMINE
     Route: 065
  775. MESALAMINE [Suspect]
     Active Substance: MESALAMINE
     Route: 065
  776. MESALAMINE [Suspect]
     Active Substance: MESALAMINE
     Route: 065
  777. MESALAMINE [Suspect]
     Active Substance: MESALAMINE
     Dosage: 2.4 GRAM, QD
     Route: 065
  778. MESALAMINE [Suspect]
     Active Substance: MESALAMINE
     Route: 048
  779. MESALAMINE [Suspect]
     Active Substance: MESALAMINE
     Route: 065
  780. MESALAMINE [Suspect]
     Active Substance: MESALAMINE
     Route: 065
  781. MESALAMINE [Suspect]
     Active Substance: MESALAMINE
     Route: 048
  782. MESALAMINE [Suspect]
     Active Substance: MESALAMINE
     Route: 048
  783. MESALAMINE [Suspect]
     Active Substance: MESALAMINE
     Dosage: 6 DOSAGE FORMS, QD
     Route: 065
  784. MESALAMINE [Suspect]
     Active Substance: MESALAMINE
     Dosage: 3 DOSAGE FORMS, QD
     Route: 065
  785. MESALAMINE [Suspect]
     Active Substance: MESALAMINE
     Route: 048
  786. MESALAMINE [Suspect]
     Active Substance: MESALAMINE
     Dosage: 4.8 MG, QD
     Route: 065
  787. MESALAMINE [Suspect]
     Active Substance: MESALAMINE
     Dosage: 1 DOSAGE FORMS, QD
     Route: 065
  788. MESALAMINE [Suspect]
     Active Substance: MESALAMINE
     Dosage: 6 DOSAGE FORMS, QD
     Route: 065
  789. MESALAMINE [Suspect]
     Active Substance: MESALAMINE
     Route: 065
  790. MESALAMINE [Suspect]
     Active Substance: MESALAMINE
     Dosage: 2.4 GRAM, QD
     Route: 048
  791. MESALAMINE [Suspect]
     Active Substance: MESALAMINE
     Dosage: 2.4 GRAM, QD
     Route: 065
  792. MESALAMINE [Suspect]
     Active Substance: MESALAMINE
     Dosage: 3 GRAM, QD
     Route: 065
  793. MESALAMINE [Suspect]
     Active Substance: MESALAMINE
     Route: 048
  794. MESALAMINE [Suspect]
     Active Substance: MESALAMINE
     Route: 065
  795. MESALAMINE [Suspect]
     Active Substance: MESALAMINE
     Route: 065
  796. MESALAMINE [Suspect]
     Active Substance: MESALAMINE
     Route: 065
  797. MESALAMINE [Suspect]
     Active Substance: MESALAMINE
     Route: 065
  798. MESALAMINE [Suspect]
     Active Substance: MESALAMINE
     Route: 065
  799. MESALAMINE [Suspect]
     Active Substance: MESALAMINE
     Route: 065
  800. MESALAMINE [Suspect]
     Active Substance: MESALAMINE
     Route: 065
  801. MESALAMINE [Suspect]
     Active Substance: MESALAMINE
     Route: 065
  802. MESALAMINE [Suspect]
     Active Substance: MESALAMINE
     Route: 065
  803. MESALAMINE [Suspect]
     Active Substance: MESALAMINE
     Route: 065
  804. MESALAMINE [Suspect]
     Active Substance: MESALAMINE
     Route: 065
  805. MESALAMINE [Suspect]
     Active Substance: MESALAMINE
     Route: 065
  806. MESALAMINE [Suspect]
     Active Substance: MESALAMINE
     Route: 065
  807. MESALAMINE [Suspect]
     Active Substance: MESALAMINE
     Route: 065
  808. CHOLECALCIFEROL [Suspect]
     Active Substance: CHOLECALCIFEROL
     Indication: Product used for unknown indication
     Dosage: 100 MILLIGRAM, QD
     Route: 065
  809. HYDROCORTISONE [Suspect]
     Active Substance: HYDROCORTISONE
     Indication: Colitis ulcerative
     Route: 065
  810. PREDNISONE [Suspect]
     Active Substance: PREDNISONE
     Indication: Colitis ulcerative
     Route: 065
  811. PREDNISONE [Suspect]
     Active Substance: PREDNISONE
     Route: 065
  812. PREDNISONE [Suspect]
     Active Substance: PREDNISONE
     Dosage: 50 MG, QD
     Route: 065
  813. PREDNISONE [Suspect]
     Active Substance: PREDNISONE
     Dosage: 40 MG, QD
     Route: 065
  814. PREDNISONE [Suspect]
     Active Substance: PREDNISONE
     Route: 065
  815. PREDNISONE [Suspect]
     Active Substance: PREDNISONE
     Route: 065
  816. PREDNISONE [Suspect]
     Active Substance: PREDNISONE
     Route: 065
     Dates: start: 2009, end: 2009
  817. PREDNISONE [Suspect]
     Active Substance: PREDNISONE
     Route: 065
     Dates: start: 2017
  818. PREDNISONE [Suspect]
     Active Substance: PREDNISONE
     Route: 048
  819. MESALAMINE [Suspect]
     Active Substance: MESALAMINE
     Indication: Colitis ulcerative
     Route: 065
  820. MESALAMINE [Suspect]
     Active Substance: MESALAMINE
     Indication: Product used for unknown indication
     Route: 065
  821. MESALAMINE [Suspect]
     Active Substance: MESALAMINE
     Route: 065
  822. MESALAMINE [Suspect]
     Active Substance: MESALAMINE
     Route: 065
  823. MESALAMINE [Suspect]
     Active Substance: MESALAMINE
     Route: 065
  824. MESALAMINE [Suspect]
     Active Substance: MESALAMINE
     Route: 065
  825. MESALAMINE [Suspect]
     Active Substance: MESALAMINE
     Route: 048
     Dates: start: 20160101, end: 20160101
  826. MESALAMINE [Suspect]
     Active Substance: MESALAMINE
     Dosage: 3 DOSAGE FORM, QD, 3 DOSAGE FORM, 2 EVERY 1 DAYS
     Route: 065
  827. MESALAMINE [Suspect]
     Active Substance: MESALAMINE
     Route: 065
  828. MESALAMINE [Suspect]
     Active Substance: MESALAMINE
     Route: 065
  829. MESALAMINE [Suspect]
     Active Substance: MESALAMINE
     Route: 048
  830. MESALAMINE [Suspect]
     Active Substance: MESALAMINE
     Dosage: 4.8 MILLIGRAM, QD
     Route: 065
  831. MESALAMINE [Suspect]
     Active Substance: MESALAMINE
     Dosage: 1 DOSAGE FORM, QD
     Route: 048
  832. MESALAMINE [Suspect]
     Active Substance: MESALAMINE
     Route: 048
  833. MESALAMINE [Suspect]
     Active Substance: MESALAMINE
     Dosage: 6 DOSAGE FORM, QD, 2 EVERY 1 DAYS
     Route: 065
  834. MESALAMINE [Suspect]
     Active Substance: MESALAMINE
     Dosage: 6 DOSAGE FORM, QD, 2 EVERY 1 DAYS
     Route: 065
  835. MESALAMINE [Suspect]
     Active Substance: MESALAMINE
     Dosage: 2.4 GRAM, QD
     Route: 065
  836. MESALAMINE [Suspect]
     Active Substance: MESALAMINE
     Dosage: 2.4 GRAM, QD
     Route: 065
  837. MESALAMINE [Suspect]
     Active Substance: MESALAMINE
     Dosage: 3 DOSAGE FORM, QD, 3 DOSAGE FORM, 2 EVERY 1 DAYS
     Route: 065
  838. MESALAMINE [Suspect]
     Active Substance: MESALAMINE
     Dosage: 6 DOSAGE FORM, QD
     Route: 048
  839. MESALAMINE [Suspect]
     Active Substance: MESALAMINE
     Route: 048
  840. MESALAMINE [Suspect]
     Active Substance: MESALAMINE
     Route: 065
  841. MESALAMINE [Suspect]
     Active Substance: MESALAMINE
     Route: 065
  842. MESALAMINE [Suspect]
     Active Substance: MESALAMINE
     Route: 048
  843. MESALAMINE [Suspect]
     Active Substance: MESALAMINE
     Route: 065
  844. MESALAMINE [Suspect]
     Active Substance: MESALAMINE
     Route: 065
  845. MESALAMINE [Suspect]
     Active Substance: MESALAMINE
     Route: 065
  846. MESALAMINE [Suspect]
     Active Substance: MESALAMINE
     Route: 065
  847. MESALAMINE [Suspect]
     Active Substance: MESALAMINE
     Route: 065
  848. MESALAMINE [Suspect]
     Active Substance: MESALAMINE
     Route: 065
  849. MESALAMINE [Suspect]
     Active Substance: MESALAMINE
     Route: 065
  850. MESALAMINE [Suspect]
     Active Substance: MESALAMINE
     Route: 065
  851. MESALAMINE [Suspect]
     Active Substance: MESALAMINE
     Route: 065
  852. MESALAMINE [Suspect]
     Active Substance: MESALAMINE
     Route: 048
  853. MESALAMINE [Suspect]
     Active Substance: MESALAMINE
     Route: 048
  854. MESALAMINE [Suspect]
     Active Substance: MESALAMINE
     Route: 048
  855. MESALAMINE [Suspect]
     Active Substance: MESALAMINE
     Route: 048
  856. MESALAMINE [Suspect]
     Active Substance: MESALAMINE
     Route: 048
  857. MESALAMINE [Suspect]
     Active Substance: MESALAMINE
     Route: 048
  858. MESALAMINE [Suspect]
     Active Substance: MESALAMINE
     Route: 065
  859. MESALAMINE [Suspect]
     Active Substance: MESALAMINE
     Dosage: 3 GRAM, QD
     Route: 065
  860. MESALAMINE [Suspect]
     Active Substance: MESALAMINE
     Route: 065
  861. MESALAMINE [Suspect]
     Active Substance: MESALAMINE
     Route: 065
  862. MESALAMINE [Suspect]
     Active Substance: MESALAMINE
     Route: 048
  863. MESALAMINE [Suspect]
     Active Substance: MESALAMINE
     Route: 048
  864. MESALAMINE [Suspect]
     Active Substance: MESALAMINE
     Dosage: 6 DOSAGE FORMS, QD
     Route: 065
  865. MESALAMINE [Suspect]
     Active Substance: MESALAMINE
     Route: 065
  866. MESALAMINE [Suspect]
     Active Substance: MESALAMINE
     Route: 065
  867. MESALAMINE [Suspect]
     Active Substance: MESALAMINE
     Route: 065
  868. MESALAMINE [Suspect]
     Active Substance: MESALAMINE
     Dosage: 4.8 MILLIGRAM, QD
     Route: 065
  869. REMICADE [Suspect]
     Active Substance: INFLIXIMAB
     Indication: Colitis ulcerative
     Route: 041
  870. REMICADE [Suspect]
     Active Substance: INFLIXIMAB
     Route: 041
  871. HUMIRA [Suspect]
     Active Substance: ADALIMUMAB
     Indication: Deep vein thrombosis
     Route: 065
  872. HUMIRA [Suspect]
     Active Substance: ADALIMUMAB
     Indication: Crohn^s disease
     Route: 048
     Dates: start: 201707
  873. HUMIRA [Suspect]
     Active Substance: ADALIMUMAB
     Indication: Colitis ulcerative
     Route: 065
  874. HUMIRA [Suspect]
     Active Substance: ADALIMUMAB
     Route: 048
     Dates: start: 201707
  875. HUMIRA [Suspect]
     Active Substance: ADALIMUMAB
     Route: 065
  876. REMICADE [Suspect]
     Active Substance: INFLIXIMAB
     Indication: Colitis ulcerative
     Route: 065
  877. VYVANSE [Suspect]
     Active Substance: LISDEXAMFETAMINE DIMESYLATE
     Indication: Attention deficit hyperactivity disorder
     Route: 065
  878. ESCITALOPRAM OXALATE [Suspect]
     Active Substance: ESCITALOPRAM OXALATE
     Indication: Product used for unknown indication
     Route: 065
  879. ESCITALOPRAM OXALATE [Suspect]
     Active Substance: ESCITALOPRAM OXALATE
     Dosage: 10 MG, QD
     Route: 065
  880. OXYCODONE HYDROCHLORIDE [Suspect]
     Active Substance: OXYCODONE HYDROCHLORIDE
     Indication: Product used for unknown indication
     Route: 065
  881. OXYCODONE HYDROCHLORIDE [Suspect]
     Active Substance: OXYCODONE HYDROCHLORIDE
     Dosage: 10 MILLIGRAM, QD, 10 MILLIGRAM, DAILY (5 MILLIGRAM, 2 DOSE PER 1 D)
     Route: 065
  882. OXYCODONE HYDROCHLORIDE [Suspect]
     Active Substance: OXYCODONE HYDROCHLORIDE
     Route: 065
  883. OXYCODONE HYDROCHLORIDE [Suspect]
     Active Substance: OXYCODONE HYDROCHLORIDE
     Dosage: 5 MILLIGRAM, QD
     Route: 065
  884. ASPIRIN [Suspect]
     Active Substance: ASPIRIN
     Indication: Product used for unknown indication
     Route: 065
  885. ASPIRIN [Suspect]
     Active Substance: ASPIRIN
     Route: 065
  886. INFLECTRA [Suspect]
     Active Substance: INFLIXIMAB-DYYB
     Indication: Crohn^s disease
     Route: 048
  887. INFLECTRA [Suspect]
     Active Substance: INFLIXIMAB-DYYB
     Indication: Colitis ulcerative
     Route: 048
  888. INFLECTRA [Suspect]
     Active Substance: INFLIXIMAB-DYYB
     Route: 065
  889. INFLECTRA [Suspect]
     Active Substance: INFLIXIMAB-DYYB
     Route: 065
  890. INFLECTRA [Suspect]
     Active Substance: INFLIXIMAB-DYYB
     Route: 042
  891. INFLECTRA [Suspect]
     Active Substance: INFLIXIMAB-DYYB
     Route: 042
  892. INFLECTRA [Suspect]
     Active Substance: INFLIXIMAB-DYYB
     Route: 065
  893. INFLECTRA [Suspect]
     Active Substance: INFLIXIMAB-DYYB
     Route: 042
  894. INFLECTRA [Suspect]
     Active Substance: INFLIXIMAB-DYYB
     Route: 042
  895. INFLECTRA [Suspect]
     Active Substance: INFLIXIMAB-DYYB
     Route: 042
  896. INFLECTRA [Suspect]
     Active Substance: INFLIXIMAB-DYYB
     Route: 042
  897. INFLECTRA [Suspect]
     Active Substance: INFLIXIMAB-DYYB
     Route: 042
  898. INFLECTRA [Suspect]
     Active Substance: INFLIXIMAB-DYYB
     Route: 042
  899. INFLECTRA [Suspect]
     Active Substance: INFLIXIMAB-DYYB
     Route: 048
  900. INFLECTRA [Suspect]
     Active Substance: INFLIXIMAB-DYYB
     Route: 048
  901. PANADOL [Suspect]
     Active Substance: ACETAMINOPHEN
     Indication: Ill-defined disorder
     Route: 065
  902. VYVANSE [Suspect]
     Active Substance: LISDEXAMFETAMINE DIMESYLATE
     Indication: Attention deficit hyperactivity disorder
     Route: 065
  903. ESCITALOPRAM OXALATE [Suspect]
     Active Substance: ESCITALOPRAM OXALATE
     Indication: Product used for unknown indication
     Route: 065
  904. CRESTOR [Suspect]
     Active Substance: ROSUVASTATIN CALCIUM
     Indication: Ill-defined disorder
     Route: 065
  905. CRESTOR [Suspect]
     Active Substance: ROSUVASTATIN CALCIUM
     Indication: Blood cholesterol increased
     Route: 065
  906. CRESTOR [Suspect]
     Active Substance: ROSUVASTATIN CALCIUM
     Route: 065
  907. CRESTOR [Suspect]
     Active Substance: ROSUVASTATIN CALCIUM
     Dosage: 10 MILLIGRAM, QD
     Route: 065
  908. CRESTOR [Suspect]
     Active Substance: ROSUVASTATIN CALCIUM
     Indication: Product used for unknown indication
     Route: 058
  909. CRESTOR [Suspect]
     Active Substance: ROSUVASTATIN CALCIUM
     Indication: Ill-defined disorder
     Route: 065
  910. CRESTOR [Suspect]
     Active Substance: ROSUVASTATIN CALCIUM
     Indication: Blood cholesterol increased
     Route: 065
  911. CRESTOR [Suspect]
     Active Substance: ROSUVASTATIN CALCIUM
     Indication: Arthritis
     Route: 065
  912. CRESTOR [Suspect]
     Active Substance: ROSUVASTATIN CALCIUM
     Indication: Colitis ulcerative
     Route: 065
  913. CRESTOR [Suspect]
     Active Substance: ROSUVASTATIN CALCIUM
     Indication: Product used for unknown indication
     Dosage: 10 MG, QD
     Route: 065
  914. CRESTOR [Suspect]
     Active Substance: ROSUVASTATIN CALCIUM
     Indication: Product used for unknown indication
     Route: 065
  915. CRESTOR [Suspect]
     Active Substance: ROSUVASTATIN CALCIUM
     Route: 065
  916. MESALAMINE [Suspect]
     Active Substance: MESALAMINE
     Indication: Colitis ulcerative
     Route: 048
     Dates: start: 20160101, end: 20160101
  917. MESALAMINE [Suspect]
     Active Substance: MESALAMINE
     Route: 048
     Dates: start: 20160101, end: 201610
  918. MESALAMINE [Suspect]
     Active Substance: MESALAMINE
     Route: 065
     Dates: start: 201601, end: 201610
  919. CHOLECALCIFEROL [Suspect]
     Active Substance: CHOLECALCIFEROL
     Indication: Product used for unknown indication
     Route: 065
  920. LISDEXAMFETAMINE DIMESYLATE [Suspect]
     Active Substance: LISDEXAMFETAMINE DIMESYLATE
     Indication: Product used for unknown indication
     Route: 065
  921. DAPAGLIFLOZIN [Suspect]
     Active Substance: DAPAGLIFLOZIN
     Indication: Ill-defined disorder
     Route: 065
  922. DAPAGLIFLOZIN [Suspect]
     Active Substance: DAPAGLIFLOZIN
     Indication: Cardiac failure chronic
     Route: 065
  923. ESOMEPRAZOLE [Suspect]
     Active Substance: ESOMEPRAZOLE
     Indication: Gastritis
     Route: 065
  924. BUDESONIDE [Suspect]
     Active Substance: BUDESONIDE
     Indication: Product used for unknown indication
     Route: 048
  925. BUDESONIDE [Suspect]
     Active Substance: BUDESONIDE
     Dosage: 8 DOSAGE FORMS, QD
     Route: 048
  926. BUDESONIDE [Suspect]
     Active Substance: BUDESONIDE
     Route: 065
  927. BUDESONIDE [Suspect]
     Active Substance: BUDESONIDE
     Route: 065
  928. BUDESONIDE [Suspect]
     Active Substance: BUDESONIDE
     Route: 048
  929. BUDESONIDE [Suspect]
     Active Substance: BUDESONIDE
     Route: 048
  930. BUDESONIDE [Suspect]
     Active Substance: BUDESONIDE
     Route: 065
  931. BUDESONIDE [Suspect]
     Active Substance: BUDESONIDE
     Dosage: 1 DOSAGE FORMS, QD
     Route: 048
  932. BUDESONIDE [Suspect]
     Active Substance: BUDESONIDE
     Dosage: 1 DOSAGE FORMS, QD
     Route: 065
  933. BUDESONIDE [Suspect]
     Active Substance: BUDESONIDE
     Dosage: 1 DOSAGE FORMS, QD
     Route: 065
  934. BUDESONIDE [Suspect]
     Active Substance: BUDESONIDE
     Dosage: 8 DOSAGE FORMS, QD
     Route: 048
  935. CANDESARTAN CILEXETIL [Suspect]
     Active Substance: CANDESARTAN CILEXETIL
     Indication: Product used for unknown indication
     Route: 048
  936. CANDESARTAN [Suspect]
     Active Substance: CANDESARTAN
     Indication: Product used for unknown indication
     Route: 048
  937. CANDESARTAN [Suspect]
     Active Substance: CANDESARTAN
     Route: 048
  938. CANDESARTAN [Suspect]
     Active Substance: CANDESARTAN
     Route: 048
  939. HYDROCORTISONE ACETATE [Suspect]
     Active Substance: HYDROCORTISONE ACETATE
     Indication: Colitis ulcerative
     Route: 065
  940. HYDROCORTISONE ACETATE [Suspect]
     Active Substance: HYDROCORTISONE ACETATE
     Indication: Crohn^s disease
     Route: 065
  941. HYDROCORTISONE ACETATE [Suspect]
     Active Substance: HYDROCORTISONE ACETATE
     Route: 065
  942. HYDROCORTISONE ACETATE [Suspect]
     Active Substance: HYDROCORTISONE ACETATE
     Route: 065
  943. HYDROCORTISONE ACETATE [Suspect]
     Active Substance: HYDROCORTISONE ACETATE
     Route: 065
  944. HYDROCORTISONE ACETATE [Suspect]
     Active Substance: HYDROCORTISONE ACETATE
     Route: 048
  945. HYDROCORTISONE ACETATE [Suspect]
     Active Substance: HYDROCORTISONE ACETATE
     Route: 048
  946. HYDROCORTISONE ACETATE [Suspect]
     Active Substance: HYDROCORTISONE ACETATE
     Route: 048
  947. HYDROCORTISONE ACETATE [Suspect]
     Active Substance: HYDROCORTISONE ACETATE
     Route: 048
  948. HYDROCORTISONE ACETATE [Suspect]
     Active Substance: HYDROCORTISONE ACETATE
     Route: 042
  949. HYDROCORTISONE ACETATE [Suspect]
     Active Substance: HYDROCORTISONE ACETATE
     Dosage: 8 DOSAGE FORMS, QD
     Route: 048
  950. HYDROCORTISONE ACETATE [Suspect]
     Active Substance: HYDROCORTISONE ACETATE
     Route: 048
  951. HYDROCORTISONE ACETATE [Suspect]
     Active Substance: HYDROCORTISONE ACETATE
     Route: 048
  952. ROSUVASTATIN CALCIUM [Suspect]
     Active Substance: ROSUVASTATIN CALCIUM
     Indication: Blood cholesterol increased
     Route: 065
  953. ROSUVASTATIN CALCIUM [Suspect]
     Active Substance: ROSUVASTATIN CALCIUM
     Indication: Ill-defined disorder
     Route: 065
  954. ROSUVASTATIN CALCIUM [Suspect]
     Active Substance: ROSUVASTATIN CALCIUM
     Route: 065
  955. ROSUVASTATIN CALCIUM [Suspect]
     Active Substance: ROSUVASTATIN CALCIUM
     Route: 065
  956. ROSUVASTATIN CALCIUM [Suspect]
     Active Substance: ROSUVASTATIN CALCIUM
     Route: 065
  957. ROSUVASTATIN CALCIUM [Suspect]
     Active Substance: ROSUVASTATIN CALCIUM
     Route: 065
  958. ROSUVASTATIN CALCIUM [Suspect]
     Active Substance: ROSUVASTATIN CALCIUM
     Route: 065
  959. ROSUVASTATIN CALCIUM [Suspect]
     Active Substance: ROSUVASTATIN CALCIUM
     Route: 065
  960. SODIUM BICARBONATE [Concomitant]
     Active Substance: SODIUM BICARBONATE
     Indication: Product used for unknown indication
     Route: 065
  961. AMLODIPINE BESYLATE [Concomitant]
     Active Substance: AMLODIPINE BESYLATE
     Indication: Product used for unknown indication
     Route: 065
  962. CALCIUM CARBONATE\SODIUM ALGINATE\SODIUM BICARBONATE [Concomitant]
     Active Substance: CALCIUM CARBONATE\SODIUM ALGINATE\SODIUM BICARBONATE
     Indication: Product used for unknown indication
     Route: 065
  963. CALCIUM CARBONATE\SODIUM ALGINATE\SODIUM BICARBONATE [Concomitant]
     Active Substance: CALCIUM CARBONATE\SODIUM ALGINATE\SODIUM BICARBONATE
     Route: 065
  964. LATANOPROST [Concomitant]
     Active Substance: LATANOPROST
     Indication: Crohn^s disease
     Route: 065
  965. LATANOPROST [Concomitant]
     Active Substance: LATANOPROST
     Indication: Colitis ulcerative
     Route: 065
  966. LATANOPROST [Concomitant]
     Active Substance: LATANOPROST
     Indication: Product used for unknown indication
     Route: 047
  967. LATANOPROST [Concomitant]
     Active Substance: LATANOPROST
     Route: 065
  968. LATANOPROST [Concomitant]
     Active Substance: LATANOPROST
     Route: 065
  969. LATANOPROST [Concomitant]
     Active Substance: LATANOPROST
     Route: 065
  970. FESOTERODINE FUMARATE [Concomitant]
     Active Substance: FESOTERODINE FUMARATE
     Indication: Product used for unknown indication
     Route: 065
  971. POLYETHYLENE GLYCOLS [Concomitant]
     Active Substance: POLYETHYLENE GLYCOLS
     Indication: Product used for unknown indication
     Route: 065
  972. POLYETHYLENE GLYCOLS [Concomitant]
     Active Substance: POLYETHYLENE GLYCOLS
     Route: 065
  973. POLYETHYLENE GLYCOLS [Concomitant]
     Active Substance: POLYETHYLENE GLYCOLS
     Route: 065
  974. POLYETHYLENE GLYCOLS [Concomitant]
     Active Substance: POLYETHYLENE GLYCOLS
     Route: 065
  975. POLYETHYLENE GLYCOLS [Concomitant]
     Active Substance: POLYETHYLENE GLYCOLS
     Route: 065
  976. POLYETHYLENE GLYCOL 3350 [Concomitant]
     Active Substance: POLYETHYLENE GLYCOL 3350
     Indication: Ill-defined disorder
     Route: 065
  977. POLYETHYLENE GLYCOL 3350 [Concomitant]
     Active Substance: POLYETHYLENE GLYCOL 3350
     Indication: Product used for unknown indication
     Route: 065
  978. POLYETHYLENE GLYCOL 3350 [Concomitant]
     Active Substance: POLYETHYLENE GLYCOL 3350
     Route: 065
  979. POLYETHYLENE GLYCOL 3350 [Concomitant]
     Active Substance: POLYETHYLENE GLYCOL 3350
     Route: 065
  980. AMLODIPINE BESYLATE [Concomitant]
     Active Substance: AMLODIPINE BESYLATE
     Indication: Product used for unknown indication
     Route: 065
  981. AMLODIPINE BESYLATE [Concomitant]
     Active Substance: AMLODIPINE BESYLATE
     Route: 065
  982. AMLODIPINE BESYLATE [Concomitant]
     Active Substance: AMLODIPINE BESYLATE
     Route: 065
  983. ATORVASTATIN CALCIUM [Concomitant]
     Active Substance: ATORVASTATIN CALCIUM
     Indication: Product used for unknown indication
     Route: 065
  984. DORZOLAMIDE HYDROCHLORIDE [Concomitant]
     Active Substance: DORZOLAMIDE HYDROCHLORIDE
     Indication: Ill-defined disorder
     Route: 065
  985. RAMIPRIL [Concomitant]
     Active Substance: RAMIPRIL
     Indication: Ill-defined disorder
     Route: 065
  986. RAMIPRIL [Concomitant]
     Active Substance: RAMIPRIL
     Indication: Product used for unknown indication
  987. RIVAROXABAN [Concomitant]
     Active Substance: RIVAROXABAN
     Indication: Ill-defined disorder
     Route: 065
  988. METHOTREXATE [Concomitant]
     Active Substance: METHOTREXATE
     Indication: Colitis ulcerative
     Route: 065
  989. METHOTREXATE [Concomitant]
     Active Substance: METHOTREXATE
     Indication: Product used for unknown indication
     Route: 065
  990. METHOTREXATE [Concomitant]
     Active Substance: METHOTREXATE
     Route: 065
     Dates: start: 20090101, end: 20160101
  991. METHOTREXATE [Concomitant]
     Active Substance: METHOTREXATE
     Route: 065
     Dates: start: 201709
  992. METHOTREXATE [Concomitant]
     Active Substance: METHOTREXATE
     Route: 065
     Dates: start: 201709, end: 201709
  993. METHOTREXATE [Concomitant]
     Active Substance: METHOTREXATE
     Route: 065
  994. METHOTREXATE [Concomitant]
     Active Substance: METHOTREXATE
     Route: 048
  995. TAMSULOSIN HYDROCHLORIDE [Concomitant]
     Active Substance: TAMSULOSIN HYDROCHLORIDE
     Indication: Ill-defined disorder
     Route: 065
  996. TAMSULOSIN HYDROCHLORIDE [Concomitant]
     Active Substance: TAMSULOSIN HYDROCHLORIDE
     Indication: Product used for unknown indication
     Route: 065
  997. FOLIC ACID [Concomitant]
     Active Substance: FOLIC ACID
     Indication: Ill-defined disorder
     Route: 065
  998. FOLIC ACID [Concomitant]
     Active Substance: FOLIC ACID
     Indication: Product used for unknown indication
  999. XELJANZ [Concomitant]
     Active Substance: TOFACITINIB CITRATE
     Indication: Colitis ulcerative
     Route: 048
  1000. XELJANZ [Concomitant]
     Active Substance: TOFACITINIB CITRATE
     Indication: Product used for unknown indication
     Route: 048
  1001. XELJANZ [Concomitant]
     Active Substance: TOFACITINIB CITRATE
     Dosage: 10 MILLIGRAM, 1 DOSE PER 1D
     Route: 048
  1002. XELJANZ [Concomitant]
     Active Substance: TOFACITINIB CITRATE
     Dosage: 5 MILLIGRAM, 1 DOSE PER 1D
     Route: 048
  1003. XELJANZ [Concomitant]
     Active Substance: TOFACITINIB CITRATE
     Route: 048
  1004. XELJANZ [Concomitant]
     Active Substance: TOFACITINIB CITRATE
     Route: 065
  1005. XELJANZ [Concomitant]
     Active Substance: TOFACITINIB CITRATE
     Route: 065
  1006. XELJANZ [Concomitant]
     Active Substance: TOFACITINIB CITRATE
     Route: 065
  1007. XELJANZ [Concomitant]
     Active Substance: TOFACITINIB CITRATE
     Route: 065
  1008. CLOBETASONE BUTYRATE [Concomitant]
     Active Substance: CLOBETASONE BUTYRATE
     Indication: Ill-defined disorder
     Route: 065
  1009. CLOBETASONE BUTYRATE [Concomitant]
     Active Substance: CLOBETASONE BUTYRATE
     Indication: Product used for unknown indication
  1010. BISOPROLOL [Concomitant]
     Active Substance: BISOPROLOL
     Indication: Dyscalculia
     Route: 065
  1011. BISOPROLOL [Concomitant]
     Active Substance: BISOPROLOL
     Indication: Ill-defined disorder
     Route: 065
  1012. EMPAGLIFLOZIN [Concomitant]
     Active Substance: EMPAGLIFLOZIN
     Indication: Ill-defined disorder
     Route: 065
  1013. EMPAGLIFLOZIN [Concomitant]
     Active Substance: EMPAGLIFLOZIN
     Indication: Product used for unknown indication
  1014. CITALOPRAM [Concomitant]
     Active Substance: CITALOPRAM
     Indication: Ill-defined disorder
     Route: 065
  1015. CITALOPRAM [Concomitant]
     Active Substance: CITALOPRAM
     Indication: Product used for unknown indication
  1016. PRAVASTATIN [Concomitant]
     Active Substance: PRAVASTATIN
     Indication: Ill-defined disorder
     Route: 065
  1017. LANSOPRAZOLE [Concomitant]
     Active Substance: LANSOPRAZOLE
     Indication: Ill-defined disorder
     Route: 065
  1018. LANSOPRAZOLE [Concomitant]
     Active Substance: LANSOPRAZOLE
     Indication: Product used for unknown indication
     Route: 065
  1019. ACETAMINOPHEN [Concomitant]
     Active Substance: ACETAMINOPHEN
     Indication: Product used for unknown indication
     Route: 065
  1020. TETRAHYDROZOLINE HYDROCHLORIDE [Concomitant]
     Active Substance: TETRAHYDROZOLINE HYDROCHLORIDE
     Indication: Product used for unknown indication
     Route: 065
  1021. TETRAHYDROZOLINE HYDROCHLORIDE [Concomitant]
     Active Substance: TETRAHYDROZOLINE HYDROCHLORIDE
     Route: 065
  1022. NITROFURANTOIN [Concomitant]
     Active Substance: NITROFURANTOIN
     Indication: Ill-defined disorder
     Route: 065
  1023. NITROFURANTOIN [Concomitant]
     Active Substance: NITROFURANTOIN
     Indication: Product used for unknown indication
  1024. RENNIE ANTACIDUM [Concomitant]
     Indication: Product used for unknown indication
     Route: 065
  1025. MINERAL OIL [Concomitant]
     Active Substance: MINERAL OIL
     Indication: Product used for unknown indication
     Route: 065
  1026. GAVISCON RELIEF [Concomitant]
     Indication: Product used for unknown indication
     Route: 065
  1027. CALCIUM CARBONATE\CHOLECALCIFEROL [Concomitant]
     Active Substance: CALCIUM CARBONATE\CHOLECALCIFEROL
     Indication: Product used for unknown indication
     Route: 065
  1028. LYRICA [Concomitant]
     Active Substance: PREGABALIN
     Indication: Ill-defined disorder
     Route: 065
  1029. LYRICA [Concomitant]
     Active Substance: PREGABALIN
     Indication: Product used for unknown indication
  1030. POLYETHYLENE GLYCOL 3350\POTASSIUM CHLORIDE\SODIUM BICARBONATE\SODIUM [Concomitant]
     Active Substance: POLYETHYLENE GLYCOL 3350\POTASSIUM CHLORIDE\SODIUM BICARBONATE\SODIUM CHLORIDE
     Indication: Product used for unknown indication
     Route: 065
  1031. LATANOPROST [Concomitant]
     Active Substance: LATANOPROST
     Indication: Product used for unknown indication
     Route: 065
  1032. BETNOVATE [Concomitant]
     Active Substance: BETAMETHASONE
     Indication: Product used for unknown indication
     Route: 065
  1033. MOVICOLON [Concomitant]
     Active Substance: POLYETHYLENE GLYCOL 3350\POTASSIUM CHLORIDE\SODIUM BICARBONATE\SODIUM CHLORIDE
     Indication: Product used for unknown indication
     Route: 065
  1034. ALGINIC ACID;ALUMINIUM HYDROXIDE GEL, DRIED;MAGNESIUM TRISILICATE;SODI [Concomitant]
     Indication: Product used for unknown indication
     Route: 065
  1035. ALGINIC ACID;ALUMINIUM HYDROXIDE GEL, DRIED;MAGNESIUM TRISILICATE;SODI [Concomitant]
     Indication: Ill-defined disorder
     Route: 065
  1036. ALGINIC ACID;ALUMINIUM HYDROXIDE GEL, DRIED;MAGNESIUM TRISILICATE;SODI [Concomitant]
     Route: 065
  1037. ALGINIC ACID;ALUMINIUM HYDROXIDE GEL, DRIED;MAGNESIUM TRISILICATE;SODI [Concomitant]
     Route: 065
  1038. ALGINIC ACID;ALUMINIUM HYDROXIDE GEL, DRIED;MAGNESIUM TRISILICATE;SODI [Concomitant]
     Route: 065
  1039. SODIUM ALGINATE\SODIUM BICARBONATE [Concomitant]
     Active Substance: SODIUM ALGINATE\SODIUM BICARBONATE
     Indication: Product used for unknown indication
     Route: 065
  1040. CALCIUM CARBONATE\CHOLECALCIFEROL [Concomitant]
     Active Substance: CALCIUM CARBONATE\CHOLECALCIFEROL
     Indication: Product used for unknown indication
     Route: 065
  1041. CALCIUM CARBONATE\CHOLECALCIFEROL [Concomitant]
     Active Substance: CALCIUM CARBONATE\CHOLECALCIFEROL
     Route: 065
  1042. MINERAL OIL [Concomitant]
     Active Substance: MINERAL OIL
     Indication: Ill-defined disorder
     Route: 065
  1043. NAPHAZOLINE HYDROCHLORIDE [Concomitant]
     Active Substance: NAPHAZOLINE HYDROCHLORIDE
     Indication: Ill-defined disorder
     Route: 065
  1044. NAPHAZOLINE HYDROCHLORIDE [Concomitant]
     Active Substance: NAPHAZOLINE HYDROCHLORIDE
     Indication: Product used for unknown indication
  1045. TOFACITINIB CITRATE [Concomitant]
     Active Substance: TOFACITINIB CITRATE
     Indication: Product used for unknown indication
     Route: 065
  1046. TOFACITINIB CITRATE [Concomitant]
     Active Substance: TOFACITINIB CITRATE
     Indication: Ill-defined disorder
     Route: 065
  1047. TOFACITINIB CITRATE [Concomitant]
     Active Substance: TOFACITINIB CITRATE
     Indication: Colitis ulcerative
     Route: 048
  1048. TOFACITINIB CITRATE [Concomitant]
     Active Substance: TOFACITINIB CITRATE
     Route: 048
  1049. TOFACITINIB CITRATE [Concomitant]
     Active Substance: TOFACITINIB CITRATE
     Route: 048
  1050. ALUMINIUM HYDROXIDE;CALCIUM CARBONATE;SODIUM ALGINATE;SODIUM BICARBONA [Concomitant]
     Indication: Product used for unknown indication
     Route: 065
  1051. ALUMINIUM HYDROXIDE;CALCIUM CARBONATE;SODIUM ALGINATE;SODIUM BICARBONA [Concomitant]
     Route: 065
  1052. PARAFFIN [Concomitant]
     Active Substance: PARAFFIN
     Indication: Product used for unknown indication
     Route: 065
  1053. TETRAHYDROZOLINE HYDROCHLORIDE [Concomitant]
     Active Substance: TETRAHYDROZOLINE HYDROCHLORIDE
     Indication: Crohn^s disease
     Route: 065
  1054. TETRAHYDROZOLINE HYDROCHLORIDE [Concomitant]
     Active Substance: TETRAHYDROZOLINE HYDROCHLORIDE
     Indication: Colitis ulcerative
  1055. TETRAHYDROZOLINE HYDROCHLORIDE [Concomitant]
     Active Substance: TETRAHYDROZOLINE HYDROCHLORIDE
     Indication: Product used for unknown indication
  1056. AMLODIPINE [Concomitant]
     Active Substance: AMLODIPINE BESYLATE
     Indication: Product used for unknown indication
     Route: 065
  1057. ATORVASTATIN [Concomitant]
     Active Substance: ATORVASTATIN
     Indication: Product used for unknown indication
     Route: 065
  1058. DORZOLAMIDE [Concomitant]
     Active Substance: DORZOLAMIDE
     Indication: Product used for unknown indication
     Route: 047
  1059. HUMIRA [Concomitant]
     Active Substance: ADALIMUMAB
     Indication: Deep vein thrombosis
     Route: 065
  1060. HUMIRA [Concomitant]
     Active Substance: ADALIMUMAB
     Indication: Deep vein thrombosis
     Route: 058
  1061. LATANOPROST [Concomitant]
     Active Substance: LATANOPROST
     Indication: Product used for unknown indication
     Route: 065
  1062. POLYETHYLENE GLYCOL 3350\POTASSIUM CHLORIDE\SODIUM BICARBONATE\SODIUM [Concomitant]
     Active Substance: POLYETHYLENE GLYCOL 3350\POTASSIUM CHLORIDE\SODIUM BICARBONATE\SODIUM CHLORIDE
     Indication: Product used for unknown indication
     Route: 065
  1063. POLYETHYLENE GLYCOL 3350\POTASSIUM CHLORIDE\SODIUM BICARBONATE\SODIUM [Concomitant]
     Active Substance: POLYETHYLENE GLYCOL 3350\POTASSIUM CHLORIDE\SODIUM BICARBONATE\SODIUM CHLORIDE
     Indication: Ill-defined disorder
     Route: 065
  1064. OMEPRAZOLE [Concomitant]
     Active Substance: OMEPRAZOLE
     Indication: Product used for unknown indication
     Route: 065
  1065. PRAVASTATIN [Concomitant]
     Active Substance: PRAVASTATIN
     Indication: Product used for unknown indication
     Route: 065
  1066. PRAVASTATIN [Concomitant]
     Active Substance: PRAVASTATIN
     Indication: Ill-defined disorder
  1067. RIVAROXABAN [Concomitant]
     Active Substance: RIVAROXABAN
     Indication: Product used for unknown indication
     Route: 065
  1068. ACETAMINOPHEN [Concomitant]
     Active Substance: ACETAMINOPHEN
     Indication: Ill-defined disorder
     Route: 065
  1069. DORZOLAMIDE HYDROCHLORIDE [Concomitant]
     Active Substance: DORZOLAMIDE HYDROCHLORIDE
     Indication: Ill-defined disorder
     Route: 065
  1070. DORZOLAMIDE HYDROCHLORIDE [Concomitant]
     Active Substance: DORZOLAMIDE HYDROCHLORIDE
     Indication: Product used for unknown indication
     Route: 065
  1071. DORZOLAMIDE HYDROCHLORIDE [Concomitant]
     Active Substance: DORZOLAMIDE HYDROCHLORIDE
     Route: 065
  1072. DORZOLAMIDE HYDROCHLORIDE [Concomitant]
     Active Substance: DORZOLAMIDE HYDROCHLORIDE
     Route: 047
  1073. ATORVASTATIN CALCIUM [Concomitant]
     Active Substance: ATORVASTATIN CALCIUM
     Indication: Product used for unknown indication
     Route: 065
  1074. LYRICA [Concomitant]
     Active Substance: PREGABALIN
     Indication: Ill-defined disorder
     Route: 065
  1075. LYRICA [Concomitant]
     Active Substance: PREGABALIN
     Indication: Product used for unknown indication
  1076. EMPAGLIFLOZIN [Concomitant]
     Active Substance: EMPAGLIFLOZIN
     Indication: Product used for unknown indication
     Route: 065
  1077. BISOPROLOL [Concomitant]
     Active Substance: BISOPROLOL
     Indication: Product used for unknown indication
     Route: 065
  1078. LANSOPRAZOLE [Concomitant]
     Active Substance: LANSOPRAZOLE
     Indication: Product used for unknown indication
     Route: 065
  1079. SULFASALAZINE [Concomitant]
     Active Substance: SULFASALAZINE
     Indication: Product used for unknown indication
     Route: 065
  1080. TETRAHYDROZOLINE HYDROCHLORIDE [Concomitant]
     Active Substance: TETRAHYDROZOLINE HYDROCHLORIDE
     Indication: Product used for unknown indication
     Route: 065
  1081. ATORVASTATIN CALCIUM [Concomitant]
     Active Substance: ATORVASTATIN CALCIUM
     Indication: Product used for unknown indication
     Route: 065
  1082. ATORVASTATIN CALCIUM [Concomitant]
     Active Substance: ATORVASTATIN CALCIUM
     Route: 065
  1083. AMLODIPINE [Concomitant]
     Active Substance: AMLODIPINE BESYLATE
     Indication: Product used for unknown indication
     Route: 065
  1084. DAPAGLIFLOZIN [Concomitant]
     Active Substance: DAPAGLIFLOZIN
     Indication: Product used for unknown indication
     Route: 065
  1085. DAPAGLIFLOZIN [Concomitant]
     Active Substance: DAPAGLIFLOZIN
     Indication: Ill-defined disorder
  1086. ALGINIC ACID [Concomitant]
     Active Substance: ALGINIC ACID
     Indication: Product used for unknown indication
     Route: 065
  1087. CALCIUM CARBONATE [Concomitant]
     Active Substance: CALCIUM CARBONATE
     Indication: Product used for unknown indication
     Route: 065
  1088. CALCIUM CARBONATE [Concomitant]
     Active Substance: CALCIUM CARBONATE
     Route: 065
  1089. CALCIUM CARBONATE\ERGOCALCIFEROL [Concomitant]
     Active Substance: CALCIUM CARBONATE\ERGOCALCIFEROL
     Indication: Product used for unknown indication
     Route: 065
  1090. CALCIUM CHLORIDE [Concomitant]
     Active Substance: CALCIUM CHLORIDE
     Indication: Product used for unknown indication
     Route: 065
  1091. CITALOPRAM HYDROBROMIDE [Concomitant]
     Active Substance: CITALOPRAM HYDROBROMIDE
     Indication: Ill-defined disorder
     Route: 065
  1092. CLOBETASONE BUTYRATE [Concomitant]
     Active Substance: CLOBETASONE BUTYRATE
     Indication: Ill-defined disorder
     Route: 065
  1093. CLOBETASONE BUTYRATE [Concomitant]
     Active Substance: CLOBETASONE BUTYRATE
     Indication: Dyscalculia
  1094. FESOTERODINE FUMARATE [Concomitant]
     Active Substance: FESOTERODINE FUMARATE
     Indication: Product used for unknown indication
     Route: 065
  1095. EUMOVATE [Concomitant]
     Active Substance: CLOBETASONE BUTYRATE
     Indication: Product used for unknown indication
     Route: 065
  1096. JARDIANCE [Concomitant]
     Active Substance: EMPAGLIFLOZIN
     Indication: Product used for unknown indication
     Route: 065
  1097. MINERAL OIL [Concomitant]
     Active Substance: MINERAL OIL
     Indication: Ill-defined disorder
     Route: 065
  1098. SODIUM ALGINATE [Concomitant]
     Active Substance: SODIUM ALGINATE
     Indication: Product used for unknown indication
     Route: 065
  1099. TAMSULOSIN [Concomitant]
     Active Substance: TAMSULOSIN
     Indication: Product used for unknown indication
     Route: 065
  1100. PRAVASTATIN SODIUM [Concomitant]
     Active Substance: PRAVASTATIN SODIUM
     Indication: Product used for unknown indication
     Route: 065
  1101. ACETAMINOPHEN AND CAFFEINE [Concomitant]
     Active Substance: ACETAMINOPHEN\CAFFEINE
     Indication: Product used for unknown indication
     Route: 065

REACTIONS (54)
  - Cardiac murmur [Not Recovered/Not Resolved]
  - Catarrh [Not Recovered/Not Resolved]
  - Condition aggravated [Not Recovered/Not Resolved]
  - Gingival pain [Not Recovered/Not Resolved]
  - Nightmare [Not Recovered/Not Resolved]
  - Somnolence [Not Recovered/Not Resolved]
  - Stress [Not Recovered/Not Resolved]
  - Swollen tongue [Not Recovered/Not Resolved]
  - Tubulointerstitial nephritis [Not Recovered/Not Resolved]
  - Hypopnoea [Not Recovered/Not Resolved]
  - Colitis ulcerative [Not Recovered/Not Resolved]
  - Parosmia [Not Recovered/Not Resolved]
  - Impaired work ability [Not Recovered/Not Resolved]
  - Loss of personal independence in daily activities [Not Recovered/Not Resolved]
  - Adverse drug reaction [Not Recovered/Not Resolved]
  - Impaired quality of life [Not Recovered/Not Resolved]
  - Bronchiectasis [Not Recovered/Not Resolved]
  - Alcohol poisoning [Not Recovered/Not Resolved]
  - Burns second degree [Not Recovered/Not Resolved]
  - Colitis ulcerative [Not Recovered/Not Resolved]
  - Steroid dependence [Not Recovered/Not Resolved]
  - Pain [Not Recovered/Not Resolved]
  - Frequent bowel movements [Not Recovered/Not Resolved]
  - Weight decreased [Not Recovered/Not Resolved]
  - Palpitations [Not Recovered/Not Resolved]
  - Fatigue [Not Recovered/Not Resolved]
  - Dysgeusia [Not Recovered/Not Resolved]
  - Abdominal discomfort [Not Recovered/Not Resolved]
  - Arthritis [Not Recovered/Not Resolved]
  - Depression [Not Recovered/Not Resolved]
  - Deep vein thrombosis [Not Recovered/Not Resolved]
  - Confusional state [Not Recovered/Not Resolved]
  - Pain in extremity [Not Recovered/Not Resolved]
  - Migraine [Not Recovered/Not Resolved]
  - Eczema [Not Recovered/Not Resolved]
  - Vertigo [Not Recovered/Not Resolved]
  - Tinnitus [Not Recovered/Not Resolved]
  - Cerebrovascular accident [Not Recovered/Not Resolved]
  - COVID-19 [Not Recovered/Not Resolved]
  - Pulmonary embolism [Not Recovered/Not Resolved]
  - Haematochezia [Not Recovered/Not Resolved]
  - Rash [Not Recovered/Not Resolved]
  - Pyrexia [Not Recovered/Not Resolved]
  - Rectal haemorrhage [Not Recovered/Not Resolved]
  - Headache [Not Recovered/Not Resolved]
  - Rhinitis [Not Recovered/Not Resolved]
  - Systemic lupus erythematosus [Not Recovered/Not Resolved]
  - Intentional product use issue [Not Recovered/Not Resolved]
  - Medication error [Not Recovered/Not Resolved]
  - Inappropriate schedule of product administration [Not Recovered/Not Resolved]
  - Product use in unapproved indication [Not Recovered/Not Resolved]
  - Off label use [Not Recovered/Not Resolved]
  - Accidental overdose [Not Recovered/Not Resolved]
  - Drug ineffective [Not Recovered/Not Resolved]

NARRATIVE: CASE EVENT DATE: 20080101
